FAERS Safety Report 21388612 (Version 7)
Quarter: 2025Q4

REPORT INFORMATION
  Report Type: Spontaneous
  Country: CA (occurrence: CA)
  Receive Date: 20220928
  Receipt Date: 20251226
  Transmission Date: 20260117
  Serious: Yes (Death, Other)
  Sender: BRISTOL-MYERS SQUIBB COMPANY
  Company Number: CA-BRISTOL-MYERS SQUIBB COMPANY-2022-113202

PATIENT
  Age: 44 Year
  Sex: Female
  Weight: 96 kg

DRUGS (967)
  1. ORENCIA [Suspect]
     Active Substance: ABATACEPT
     Indication: Rheumatoid arthritis
     Route: 058
  2. ORENCIA [Suspect]
     Active Substance: ABATACEPT
     Indication: Psoriatic arthropathy
     Route: 058
  3. ORENCIA [Suspect]
     Active Substance: ABATACEPT
     Route: 058
  4. ORENCIA [Suspect]
     Active Substance: ABATACEPT
     Route: 058
  5. ORENCIA [Suspect]
     Active Substance: ABATACEPT
     Route: 058
  6. ORENCIA [Suspect]
     Active Substance: ABATACEPT
     Route: 058
  7. ORENCIA [Suspect]
     Active Substance: ABATACEPT
     Route: 058
  8. ORENCIA [Suspect]
     Active Substance: ABATACEPT
     Route: 058
  9. ORENCIA [Suspect]
     Active Substance: ABATACEPT
     Indication: Rheumatoid arthritis
     Route: 042
  10. ORENCIA [Suspect]
     Active Substance: ABATACEPT
     Indication: Psoriatic arthropathy
     Route: 042
  11. ORENCIA [Suspect]
     Active Substance: ABATACEPT
     Route: 041
  12. ORENCIA [Suspect]
     Active Substance: ABATACEPT
     Route: 042
  13. ORENCIA [Suspect]
     Active Substance: ABATACEPT
     Route: 040
  14. ORENCIA [Suspect]
     Active Substance: ABATACEPT
     Indication: Rheumatoid arthritis
     Dosage: FREQUENCY: EVERY DAY
     Route: 017
  15. ORENCIA [Suspect]
     Active Substance: ABATACEPT
     Indication: Psoriatic arthropathy
  16. ORENCIA [Suspect]
     Active Substance: ABATACEPT
     Dosage: FREQUENCY: EVERY DAY
     Route: 048
  17. TRIAMCINOLONE ACETONIDE [Suspect]
     Active Substance: TRIAMCINOLONE ACETONIDE
     Indication: Product used for unknown indication
  18. ORENCIA [Suspect]
     Active Substance: ABATACEPT
     Indication: Rheumatoid arthritis
     Dosage: FREQUENCY: EVERY DAY
     Route: 015
  19. ORENCIA [Suspect]
     Active Substance: ABATACEPT
     Indication: Psoriatic arthropathy
     Route: 040
  20. ORENCIA [Suspect]
     Active Substance: ABATACEPT
     Route: 067
  21. ORENCIA [Suspect]
     Active Substance: ABATACEPT
     Route: 048
  22. ORENCIA [Suspect]
     Active Substance: ABATACEPT
     Route: 067
  23. ORENCIA [Suspect]
     Active Substance: ABATACEPT
     Route: 040
  24. ORENCIA [Suspect]
     Active Substance: ABATACEPT
     Indication: Rheumatoid arthritis
     Dosage: FREQUENCY: EVERY DAY
     Route: 048
  25. ORENCIA [Suspect]
     Active Substance: ABATACEPT
     Indication: Psoriatic arthropathy
  26. FLUMETHASONE PIVALATE [Concomitant]
     Active Substance: FLUMETHASONE PIVALATE
     Indication: Rheumatoid arthritis
     Route: 003
  27. FLUMETHASONE PIVALATE [Concomitant]
     Active Substance: FLUMETHASONE PIVALATE
     Indication: Drug ineffective
  28. FLUMETHASONE PIVALATE [Concomitant]
     Active Substance: FLUMETHASONE PIVALATE
  29. FLUMETHASONE PIVALATE [Concomitant]
     Active Substance: FLUMETHASONE PIVALATE
     Route: 058
  30. FLUMETHASONE PIVALATE [Concomitant]
     Active Substance: FLUMETHASONE PIVALATE
  31. ACETAMINOPHEN [Concomitant]
     Active Substance: ACETAMINOPHEN
     Indication: Rheumatoid arthritis
     Route: 048
  32. ACETAMINOPHEN [Concomitant]
     Active Substance: ACETAMINOPHEN
     Indication: Pain
     Route: 048
  33. ACETAMINOPHEN [Concomitant]
     Active Substance: ACETAMINOPHEN
     Indication: Pyrexia
  34. ACETAMINOPHEN [Concomitant]
     Active Substance: ACETAMINOPHEN
     Route: 048
  35. ACETAMINOPHEN [Concomitant]
     Active Substance: ACETAMINOPHEN
  36. ACETAMINOPHEN [Concomitant]
     Active Substance: ACETAMINOPHEN
  37. ACETAMINOPHEN [Concomitant]
     Active Substance: ACETAMINOPHEN
  38. ACETAMINOPHEN/WDEXTROPROPOXYPHENE [Concomitant]
     Indication: Product used for unknown indication
  39. ACETAMINOPHEN\CAFFEINE\DIHYDROCODEINE BITARTRATE [Concomitant]
     Active Substance: ACETAMINOPHEN\CAFFEINE\DIHYDROCODEINE BITARTRATE
     Indication: Product used for unknown indication
  40. OXYCODONE AND ACETAMINOPHEN [Concomitant]
     Active Substance: ACETAMINOPHEN\OXYCODONE HYDROCHLORIDE
     Indication: Product used for unknown indication
  41. ACTEMRA [Concomitant]
     Active Substance: TOCILIZUMAB
     Indication: Rheumatoid arthritis
     Route: 040
  42. ACTEMRA [Concomitant]
     Active Substance: TOCILIZUMAB
     Route: 040
  43. ACTEMRA [Concomitant]
     Active Substance: TOCILIZUMAB
  44. ACTEMRA [Concomitant]
     Active Substance: TOCILIZUMAB
  45. ACTEMRA [Concomitant]
     Active Substance: TOCILIZUMAB
     Route: 040
  46. ACTEMRA [Concomitant]
     Active Substance: TOCILIZUMAB
     Route: 040
  47. ACTEMRA [Concomitant]
     Active Substance: TOCILIZUMAB
  48. ACTEMRA [Concomitant]
     Active Substance: TOCILIZUMAB
     Route: 058
  49. ACTEMRA [Concomitant]
     Active Substance: TOCILIZUMAB
     Route: 048
  50. ACTEMRA [Concomitant]
     Active Substance: TOCILIZUMAB
     Route: 040
  51. ACTEMRA [Concomitant]
     Active Substance: TOCILIZUMAB
     Route: 040
  52. ACTEMRA [Concomitant]
     Active Substance: TOCILIZUMAB
     Route: 016
  53. ACTEMRA [Concomitant]
     Active Substance: TOCILIZUMAB
  54. ACTEMRA [Concomitant]
     Active Substance: TOCILIZUMAB
  55. ACTEMRA [Concomitant]
     Active Substance: TOCILIZUMAB
  56. ACTEMRA [Concomitant]
     Active Substance: TOCILIZUMAB
  57. ACTEMRA [Concomitant]
     Active Substance: TOCILIZUMAB
     Route: 040
  58. ACTEMRA [Concomitant]
     Active Substance: TOCILIZUMAB
     Route: 040
  59. ACTEMRA [Concomitant]
     Active Substance: TOCILIZUMAB
     Route: 058
  60. ACTEMRA [Concomitant]
     Active Substance: TOCILIZUMAB
     Route: 058
  61. ACTEMRA [Concomitant]
     Active Substance: TOCILIZUMAB
  62. ACTEMRA [Concomitant]
     Active Substance: TOCILIZUMAB
     Route: 016
  63. ACTEMRA [Concomitant]
     Active Substance: TOCILIZUMAB
     Route: 040
  64. ACTEMRA [Concomitant]
     Active Substance: TOCILIZUMAB
     Route: 040
  65. ACTEMRA [Concomitant]
     Active Substance: TOCILIZUMAB
     Route: 040
  66. ACTEMRA [Concomitant]
     Active Substance: TOCILIZUMAB
  67. ACTEMRA [Concomitant]
     Active Substance: TOCILIZUMAB
  68. ACTEMRA [Concomitant]
     Active Substance: TOCILIZUMAB
     Route: 040
  69. ACTEMRA [Concomitant]
     Active Substance: TOCILIZUMAB
     Route: 058
  70. ACTEMRA [Concomitant]
     Active Substance: TOCILIZUMAB
     Route: 058
  71. ACTEMRA [Concomitant]
     Active Substance: TOCILIZUMAB
  72. ACTEMRA [Concomitant]
     Active Substance: TOCILIZUMAB
     Route: 016
  73. ACTEMRA [Concomitant]
     Active Substance: TOCILIZUMAB
  74. ADALIMUMAB [Concomitant]
     Active Substance: ADALIMUMAB
     Indication: Psoriatic arthropathy
     Route: 058
  75. ADALIMUMAB [Concomitant]
     Active Substance: ADALIMUMAB
     Indication: Rheumatoid arthritis
     Dosage: SOLUTION SUBCUTANEOUS
     Route: 048
  76. ADALIMUMAB [Concomitant]
     Active Substance: ADALIMUMAB
     Route: 058
  77. ADALIMUMAB [Concomitant]
     Active Substance: ADALIMUMAB
     Route: 058
  78. ADALIMUMAB [Concomitant]
     Active Substance: ADALIMUMAB
  79. ADALIMUMAB [Concomitant]
     Active Substance: ADALIMUMAB
     Route: 058
  80. ADALIMUMAB [Concomitant]
     Active Substance: ADALIMUMAB
     Route: 058
  81. ADALIMUMAB [Concomitant]
     Active Substance: ADALIMUMAB
     Route: 048
  82. ADALIMUMAB [Concomitant]
     Active Substance: ADALIMUMAB
     Route: 058
  83. ALENDRONATE SODIUM [Concomitant]
     Active Substance: ALENDRONATE SODIUM
     Indication: Rheumatoid arthritis
     Route: 016
  84. ALENDRONATE SODIUM [Concomitant]
     Active Substance: ALENDRONATE SODIUM
  85. ALENDRONATE SODIUM [Concomitant]
     Active Substance: ALENDRONATE SODIUM
     Route: 048
  86. ALENDRONATE SODIUM [Concomitant]
     Active Substance: ALENDRONATE SODIUM
     Route: 048
  87. ALENDRONATE SODIUM [Concomitant]
     Active Substance: ALENDRONATE SODIUM
     Route: 058
  88. ALENDRONATE SODIUM [Concomitant]
     Active Substance: ALENDRONATE SODIUM
  89. LEFLUNOMIDE [Concomitant]
     Active Substance: LEFLUNOMIDE
     Indication: Rheumatoid arthritis
     Route: 048
  90. PREDNISONE [Concomitant]
     Active Substance: PREDNISONE
     Indication: Rheumatoid arthritis
  91. PREDNISONE [Concomitant]
     Active Substance: PREDNISONE
     Indication: Systemic lupus erythematosus
  92. PREDNISONE [Concomitant]
     Active Substance: PREDNISONE
     Indication: Synovitis
  93. PREDNISONE [Concomitant]
     Active Substance: PREDNISONE
     Indication: Psoriatic arthropathy
     Route: 048
  94. PREDNISONE [Concomitant]
     Active Substance: PREDNISONE
     Indication: Pemphigus
     Route: 048
  95. PREDNISONE [Concomitant]
     Active Substance: PREDNISONE
     Indication: Inflammation
  96. PREDNISONE [Concomitant]
     Active Substance: PREDNISONE
     Indication: Bursitis
     Route: 040
  97. PREDNISONE [Concomitant]
     Active Substance: PREDNISONE
     Route: 048
  98. PREDNISONE [Concomitant]
     Active Substance: PREDNISONE
     Route: 048
  99. PREDNISONE [Concomitant]
     Active Substance: PREDNISONE
     Route: 048
  100. ARAVA [Concomitant]
     Active Substance: LEFLUNOMIDE
     Indication: Rheumatoid arthritis
     Route: 048
  101. ARAVA [Concomitant]
     Active Substance: LEFLUNOMIDE
     Route: 019
  102. ARAVA [Concomitant]
     Active Substance: LEFLUNOMIDE
     Route: 048
  103. ARAVA [Concomitant]
     Active Substance: LEFLUNOMIDE
     Route: 048
  104. ARAVA [Concomitant]
     Active Substance: LEFLUNOMIDE
     Route: 005
  105. ARAVA [Concomitant]
     Active Substance: LEFLUNOMIDE
  106. ARAVA [Concomitant]
     Active Substance: LEFLUNOMIDE
     Route: 019
  107. ARAVA [Concomitant]
     Active Substance: LEFLUNOMIDE
  108. ARAVA [Concomitant]
     Active Substance: LEFLUNOMIDE
     Route: 048
  109. ARAVA [Concomitant]
     Active Substance: LEFLUNOMIDE
  110. ARAVA [Concomitant]
     Active Substance: LEFLUNOMIDE
  111. ACETAMINOPHEN\CAFFEINE\CODEINE PHOSPHATE [Concomitant]
     Active Substance: ACETAMINOPHEN\CAFFEINE\CODEINE PHOSPHATE
     Indication: Product used for unknown indication
  112. ATIVAN [Concomitant]
     Active Substance: LORAZEPAM
     Indication: Rheumatoid arthritis
  113. ATIVAN [Concomitant]
     Active Substance: LORAZEPAM
     Indication: Anxiety
  114. CAFFEINE [Concomitant]
     Active Substance: CAFFEINE
     Indication: Rheumatoid arthritis
  115. CAFFEINE [Concomitant]
     Active Substance: CAFFEINE
  116. CELEBREX [Concomitant]
     Active Substance: CELECOXIB
     Indication: Rheumatoid arthritis
  117. CELEBREX [Concomitant]
     Active Substance: CELECOXIB
     Indication: Arthritis
     Route: 048
  118. CELEBREX [Concomitant]
     Active Substance: CELECOXIB
     Route: 048
  119. CELEBREX [Concomitant]
     Active Substance: CELECOXIB
     Route: 048
  120. CELEBREX [Concomitant]
     Active Substance: CELECOXIB
     Route: 048
  121. CELEBREX [Concomitant]
     Active Substance: CELECOXIB
  122. CELEBREX [Concomitant]
     Active Substance: CELECOXIB
     Route: 048
  123. CELEBREX [Concomitant]
     Active Substance: CELECOXIB
  124. CELEBREX [Concomitant]
     Active Substance: CELECOXIB
  125. CELEBREX [Concomitant]
     Active Substance: CELECOXIB
  126. CELEBREX [Concomitant]
     Active Substance: CELECOXIB
     Route: 048
  127. CETIRIZINE [Concomitant]
     Active Substance: CETIRIZINE HYDROCHLORIDE
     Indication: Rheumatoid arthritis
  128. CETIRIZINE [Concomitant]
     Active Substance: CETIRIZINE HYDROCHLORIDE
  129. CETIRIZINE [Concomitant]
     Active Substance: CETIRIZINE HYDROCHLORIDE
  130. CETIRIZINE [Concomitant]
     Active Substance: CETIRIZINE HYDROCHLORIDE
  131. CETIRIZINE [Concomitant]
     Active Substance: CETIRIZINE HYDROCHLORIDE
     Route: 048
  132. CETIRIZINE [Concomitant]
     Active Substance: CETIRIZINE HYDROCHLORIDE
  133. CETIRIZINE [Concomitant]
     Active Substance: CETIRIZINE HYDROCHLORIDE
  134. CETIRIZINE [Concomitant]
     Active Substance: CETIRIZINE HYDROCHLORIDE
  135. CETIRIZINE [Concomitant]
     Active Substance: CETIRIZINE HYDROCHLORIDE
     Route: 016
  136. CETIRIZINE [Concomitant]
     Active Substance: CETIRIZINE HYDROCHLORIDE
     Route: 016
  137. CETIRIZINE [Concomitant]
     Active Substance: CETIRIZINE HYDROCHLORIDE
     Route: 048
  138. CETIRIZINE [Concomitant]
     Active Substance: CETIRIZINE HYDROCHLORIDE
     Route: 048
  139. CETIRIZINE [Concomitant]
     Active Substance: CETIRIZINE HYDROCHLORIDE
  140. CETIRIZINE [Concomitant]
     Active Substance: CETIRIZINE HYDROCHLORIDE
  141. CETIRIZINE [Concomitant]
     Active Substance: CETIRIZINE HYDROCHLORIDE
  142. CETIRIZINE HYDROCHLORIDE [Concomitant]
     Active Substance: CETIRIZINE HYDROCHLORIDE
     Indication: Rheumatoid arthritis
     Route: 048
  143. CETIRIZINE HYDROCHLORIDE [Concomitant]
     Active Substance: CETIRIZINE HYDROCHLORIDE
     Indication: Off label use
     Route: 048
  144. CETIRIZINE HYDROCHLORIDE [Concomitant]
     Active Substance: CETIRIZINE HYDROCHLORIDE
     Route: 048
  145. CETIRIZINE HYDROCHLORIDE [Concomitant]
     Active Substance: CETIRIZINE HYDROCHLORIDE
     Route: 048
  146. CETIRIZINE HYDROCHLORIDE [Concomitant]
     Active Substance: CETIRIZINE HYDROCHLORIDE
  147. CETIRIZINE HYDROCHLORIDE [Concomitant]
     Active Substance: CETIRIZINE HYDROCHLORIDE
  148. CETIRIZINE HYDROCHLORIDE [Concomitant]
     Active Substance: CETIRIZINE HYDROCHLORIDE
     Route: 016
  149. CETIRIZINE HYDROCHLORIDE [Concomitant]
     Active Substance: CETIRIZINE HYDROCHLORIDE
     Route: 048
  150. CETIRIZINE HYDROCHLORIDE [Concomitant]
     Active Substance: CETIRIZINE HYDROCHLORIDE
  151. CETIRIZINE HYDROCHLORIDE [Concomitant]
     Active Substance: CETIRIZINE HYDROCHLORIDE
     Route: 048
  152. CETIRIZINE HYDROCHLORIDE [Concomitant]
     Active Substance: CETIRIZINE HYDROCHLORIDE
  153. CETIRIZINE HYDROCHLORIDE [Concomitant]
     Active Substance: CETIRIZINE HYDROCHLORIDE
     Route: 058
  154. CETIRIZINE HYDROCHLORIDE [Concomitant]
     Active Substance: CETIRIZINE HYDROCHLORIDE
     Route: 058
  155. CETIRIZINE HYDROCHLORIDE [Concomitant]
     Active Substance: CETIRIZINE HYDROCHLORIDE
     Route: 016
  156. CETIRIZINE HYDROCHLORIDE [Concomitant]
     Active Substance: CETIRIZINE HYDROCHLORIDE
  157. CETIRIZINE HYDROCHLORIDE [Concomitant]
     Active Substance: CETIRIZINE HYDROCHLORIDE
  158. CETIRIZINE HYDROCHLORIDE [Concomitant]
     Active Substance: CETIRIZINE HYDROCHLORIDE
  159. CETIRIZINE HYDROCHLORIDE [Concomitant]
     Active Substance: CETIRIZINE HYDROCHLORIDE
  160. CETIRIZINE HYDROCHLORIDE [Concomitant]
     Active Substance: CETIRIZINE HYDROCHLORIDE
     Route: 048
  161. CETIRIZINE HYDROCHLORIDE [Concomitant]
     Active Substance: CETIRIZINE HYDROCHLORIDE
     Route: 048
  162. CETIRIZINE HYDROCHLORIDE [Concomitant]
     Active Substance: CETIRIZINE HYDROCHLORIDE
     Route: 048
  163. CHLORAPREP [Concomitant]
     Active Substance: CHLORHEXIDINE GLUCONATE\ISOPROPYL ALCOHOL
     Indication: Product used for unknown indication
  164. CHLORAPREP [Concomitant]
     Active Substance: CHLORHEXIDINE GLUCONATE\ISOPROPYL ALCOHOL
     Route: 048
  165. CHLORAPREP [Concomitant]
     Active Substance: CHLORHEXIDINE GLUCONATE\ISOPROPYL ALCOHOL
  166. CHLORAPREP [Concomitant]
     Active Substance: CHLORHEXIDINE GLUCONATE\ISOPROPYL ALCOHOL
  167. CIMZIA [Concomitant]
     Active Substance: CERTOLIZUMAB PEGOL
     Indication: Rheumatoid arthritis
     Route: 058
  168. CIMZIA [Concomitant]
     Active Substance: CERTOLIZUMAB PEGOL
     Indication: Psoriatic arthropathy
     Route: 058
  169. CIMZIA [Concomitant]
     Active Substance: CERTOLIZUMAB PEGOL
     Indication: Psoriasis
     Route: 058
  170. CIMZIA [Concomitant]
     Active Substance: CERTOLIZUMAB PEGOL
     Route: 058
  171. CIMZIA [Concomitant]
     Active Substance: CERTOLIZUMAB PEGOL
  172. CIMZIA [Concomitant]
     Active Substance: CERTOLIZUMAB PEGOL
     Route: 005
  173. CIMZIA [Concomitant]
     Active Substance: CERTOLIZUMAB PEGOL
     Route: 058
  174. CIMZIA [Concomitant]
     Active Substance: CERTOLIZUMAB PEGOL
     Route: 040
  175. CIMZIA [Concomitant]
     Active Substance: CERTOLIZUMAB PEGOL
     Route: 058
  176. CIMZIA [Concomitant]
     Active Substance: CERTOLIZUMAB PEGOL
  177. CIMZIA [Concomitant]
     Active Substance: CERTOLIZUMAB PEGOL
     Route: 048
  178. CIMZIA [Concomitant]
     Active Substance: CERTOLIZUMAB PEGOL
     Route: 058
  179. CIMZIA [Concomitant]
     Active Substance: CERTOLIZUMAB PEGOL
     Route: 058
  180. CODEINE [Concomitant]
     Active Substance: CODEINE
     Indication: Rheumatoid arthritis
  181. CODEINE [Concomitant]
     Active Substance: CODEINE
  182. CORTISONE [Concomitant]
     Active Substance: CORTISONE
     Indication: Rheumatoid arthritis
  183. CORTISONE [Concomitant]
     Active Substance: CORTISONE
  184. CORTISONE [Concomitant]
     Active Substance: CORTISONE
     Route: 048
  185. CORTISONE [Concomitant]
     Active Substance: CORTISONE
  186. CORTISONE [Concomitant]
     Active Substance: CORTISONE
  187. CORTISONE [Concomitant]
     Active Substance: CORTISONE
     Route: 048
  188. CORTISONE [Concomitant]
     Active Substance: CORTISONE
  189. CORTISONE [Concomitant]
     Active Substance: CORTISONE
  190. CORTISONE [Concomitant]
     Active Substance: CORTISONE
     Route: 058
  191. CORTISONE [Concomitant]
     Active Substance: CORTISONE
     Route: 048
  192. CORTISONE [Concomitant]
     Active Substance: CORTISONE
     Route: 058
  193. CORTISONE [Concomitant]
     Active Substance: CORTISONE
  194. CORTISONE [Concomitant]
     Active Substance: CORTISONE
  195. CORTISONE [Concomitant]
     Active Substance: CORTISONE
  196. CORTISONE [Concomitant]
     Active Substance: CORTISONE
  197. CORTISONE [Concomitant]
     Active Substance: CORTISONE
  198. CORTISONE ACETATE [Concomitant]
     Active Substance: CORTISONE ACETATE
     Indication: Rheumatoid arthritis
  199. CORTISONE ACETATE [Concomitant]
     Active Substance: CORTISONE ACETATE
     Route: 048
  200. CORTISONE ACETATE [Concomitant]
     Active Substance: CORTISONE ACETATE
  201. CORTISONE ACETATE [Concomitant]
     Active Substance: CORTISONE ACETATE
     Route: 048
  202. CORTISONE ACETATE [Concomitant]
     Active Substance: CORTISONE ACETATE
  203. CORTISONE ACETATE [Concomitant]
     Active Substance: CORTISONE ACETATE
  204. CORTISONE ACETATE [Concomitant]
     Active Substance: CORTISONE ACETATE
  205. CORTISONE ACETATE [Concomitant]
     Active Substance: CORTISONE ACETATE
     Route: 058
  206. COSENTYX [Concomitant]
     Active Substance: SECUKINUMAB
     Indication: Psoriatic arthropathy
  207. COSENTYX [Concomitant]
     Active Substance: SECUKINUMAB
     Indication: Rheumatoid arthritis
     Route: 005
  208. COSENTYX [Concomitant]
     Active Substance: SECUKINUMAB
     Route: 048
  209. COSENTYX [Concomitant]
     Active Substance: SECUKINUMAB
     Route: 040
  210. COSENTYX [Concomitant]
     Active Substance: SECUKINUMAB
  211. DESOGESTREL AND ETHINYL ESTRADIOL [Concomitant]
     Active Substance: DESOGESTREL\ETHINYL ESTRADIOL
     Indication: Product used for unknown indication
  212. DESOGESTREL AND ETHINYL ESTRADIOL [Concomitant]
     Active Substance: DESOGESTREL\ETHINYL ESTRADIOL
  213. DESOXIMETASONE [Concomitant]
     Active Substance: DESOXIMETASONE
     Indication: Rheumatoid arthritis
     Route: 048
  214. DESOXIMETASONE [Concomitant]
     Active Substance: DESOXIMETASONE
     Route: 003
  215. DESOXIMETASONE [Concomitant]
     Active Substance: DESOXIMETASONE
  216. DESOXIMETASONE [Concomitant]
     Active Substance: DESOXIMETASONE
  217. DESOXIMETASONE [Concomitant]
     Active Substance: DESOXIMETASONE
     Route: 003
  218. DESOXIMETASONE [Concomitant]
     Active Substance: DESOXIMETASONE
  219. DESOXIMETASONE [Concomitant]
     Active Substance: DESOXIMETASONE
     Route: 058
  220. DESOXIMETASONE [Concomitant]
     Active Substance: DESOXIMETASONE
     Route: 048
  221. DESOXIMETASONE [Concomitant]
     Active Substance: DESOXIMETASONE
     Route: 016
  222. DESOXIMETASONE [Concomitant]
     Active Substance: DESOXIMETASONE
     Route: 048
  223. DESOXIMETASONE [Concomitant]
     Active Substance: DESOXIMETASONE
  224. DESOXIMETASONE [Concomitant]
     Active Substance: DESOXIMETASONE
     Route: 067
  225. DESOXIMETASONE [Concomitant]
     Active Substance: DESOXIMETASONE
     Route: 067
  226. DESOXIMETASONE [Concomitant]
     Active Substance: DESOXIMETASONE
  227. DESOXIMETASONE [Concomitant]
     Active Substance: DESOXIMETASONE
  228. DESOXIMETASONE [Concomitant]
     Active Substance: DESOXIMETASONE
  229. DESOXIMETASONE [Concomitant]
     Active Substance: DESOXIMETASONE
  230. DESOXIMETASONE [Concomitant]
     Active Substance: DESOXIMETASONE
     Route: 058
  231. DESOXIMETASONE [Concomitant]
     Active Substance: DESOXIMETASONE
  232. DESOXIMETASONE [Concomitant]
     Active Substance: DESOXIMETASONE
     Route: 048
  233. DESOXIMETASONE [Concomitant]
     Active Substance: DESOXIMETASONE
  234. DESOXIMETASONE [Concomitant]
     Active Substance: DESOXIMETASONE
  235. DESOXIMETASONE [Concomitant]
     Active Substance: DESOXIMETASONE
  236. DESOXIMETASONE [Concomitant]
     Active Substance: DESOXIMETASONE
  237. DESOXIMETASONE [Concomitant]
     Active Substance: DESOXIMETASONE
     Route: 048
  238. DESOXIMETASONE [Concomitant]
     Active Substance: DESOXIMETASONE
  239. DESOXIMETASONE [Concomitant]
     Active Substance: DESOXIMETASONE
  240. DESOXIMETASONE [Concomitant]
     Active Substance: DESOXIMETASONE
  241. DESOXIMETASONE [Concomitant]
     Active Substance: DESOXIMETASONE
     Route: 067
  242. DESOXIMETASONE [Concomitant]
     Active Substance: DESOXIMETASONE
  243. DESOXIMETASONE [Concomitant]
     Active Substance: DESOXIMETASONE
     Route: 048
  244. DESOXIMETASONE [Concomitant]
     Active Substance: DESOXIMETASONE
  245. DESOXIMETASONE [Concomitant]
     Active Substance: DESOXIMETASONE
  246. DESOXIMETASONE [Concomitant]
     Active Substance: DESOXIMETASONE
  247. DICLOFENAC [Concomitant]
     Active Substance: DICLOFENAC
     Indication: Rheumatoid arthritis
     Route: 047
  248. DICLOFENAC [Concomitant]
     Active Substance: DICLOFENAC
  249. DICLOFENAC [Concomitant]
     Active Substance: DICLOFENAC
  250. DICLOFENAC [Concomitant]
     Active Substance: DICLOFENAC
  251. DICLOFENAC POTASSIUM [Concomitant]
     Active Substance: DICLOFENAC POTASSIUM
     Indication: Rheumatoid arthritis
  252. DICLOFENAC POTASSIUM [Concomitant]
     Active Substance: DICLOFENAC POTASSIUM
     Route: 048
  253. DICLOFENAC POTASSIUM [Concomitant]
     Active Substance: DICLOFENAC POTASSIUM
  254. DICLOFENAC POTASSIUM [Concomitant]
     Active Substance: DICLOFENAC POTASSIUM
     Route: 048
  255. DICLOFENAC POTASSIUM [Concomitant]
     Active Substance: DICLOFENAC POTASSIUM
  256. DICLOFENAC POTASSIUM [Concomitant]
     Active Substance: DICLOFENAC POTASSIUM
     Route: 048
  257. DICLOFENAC POTASSIUM [Concomitant]
     Active Substance: DICLOFENAC POTASSIUM
  258. DICLOFENAC POTASSIUM [Concomitant]
     Active Substance: DICLOFENAC POTASSIUM
  259. DICLOFENAC POTASSIUM [Concomitant]
     Active Substance: DICLOFENAC POTASSIUM
  260. DICLOFENAC SODIUM [Concomitant]
     Active Substance: DICLOFENAC SODIUM
     Indication: Rheumatoid arthritis
  261. DICLOFENAC SODIUM [Concomitant]
     Active Substance: DICLOFENAC SODIUM
     Indication: Osteoarthritis
     Route: 058
  262. DICLOFENAC SODIUM [Concomitant]
     Active Substance: DICLOFENAC SODIUM
     Indication: Inflammation
  263. DICLOFENAC SODIUM [Concomitant]
     Active Substance: DICLOFENAC SODIUM
     Route: 058
  264. DICLOFENAC SODIUM [Concomitant]
     Active Substance: DICLOFENAC SODIUM
  265. DICLOFENAC SODIUM [Concomitant]
     Active Substance: DICLOFENAC SODIUM
  266. DICLOFENAC SODIUM [Concomitant]
     Active Substance: DICLOFENAC SODIUM
  267. DICLOFENAC SODIUM [Concomitant]
     Active Substance: DICLOFENAC SODIUM
  268. DICLOFENAC SODIUM [Concomitant]
     Active Substance: DICLOFENAC SODIUM
  269. DICLOFENAC SODIUM [Concomitant]
     Active Substance: DICLOFENAC SODIUM
  270. DICLOFENAC SODIUM [Concomitant]
     Active Substance: DICLOFENAC SODIUM
  271. DICLOFENAC SODIUM [Concomitant]
     Active Substance: DICLOFENAC SODIUM
  272. DICLOFENAC SODIUM [Concomitant]
     Active Substance: DICLOFENAC SODIUM
  273. DICLOFENAC SODIUM [Concomitant]
     Active Substance: DICLOFENAC SODIUM
     Route: 048
  274. DICLOFENAC SODIUM [Concomitant]
     Active Substance: DICLOFENAC SODIUM
  275. DICLOFENAC SODIUM [Concomitant]
     Active Substance: DICLOFENAC SODIUM
     Route: 058
  276. DICLOFENAC SODIUM [Concomitant]
     Active Substance: DICLOFENAC SODIUM
     Route: 058
  277. DOXYCYCLINE [Concomitant]
     Active Substance: DOXYCYCLINE
     Indication: Product used for unknown indication
  278. DOXYCYCLINE [Concomitant]
     Active Substance: DOXYCYCLINE
  279. ENBREL [Concomitant]
     Active Substance: ETANERCEPT
     Indication: Rheumatoid arthritis
     Route: 058
  280. ENBREL [Concomitant]
     Active Substance: ETANERCEPT
     Indication: Psoriatic arthropathy
     Route: 058
  281. ENBREL [Concomitant]
     Active Substance: ETANERCEPT
     Route: 058
  282. ENBREL [Concomitant]
     Active Substance: ETANERCEPT
     Route: 058
  283. ENBREL [Concomitant]
     Active Substance: ETANERCEPT
  284. ENBREL [Concomitant]
     Active Substance: ETANERCEPT
  285. ENBREL [Concomitant]
     Active Substance: ETANERCEPT
     Route: 058
  286. ENBREL [Concomitant]
     Active Substance: ETANERCEPT
     Route: 058
  287. ENBREL [Concomitant]
     Active Substance: ETANERCEPT
     Route: 058
  288. ENBREL [Concomitant]
     Active Substance: ETANERCEPT
     Route: 058
  289. ENBREL [Concomitant]
     Active Substance: ETANERCEPT
     Route: 058
  290. ENBREL [Concomitant]
     Active Substance: ETANERCEPT
     Route: 048
  291. ENBREL [Concomitant]
     Active Substance: ETANERCEPT
  292. ENBREL [Concomitant]
     Active Substance: ETANERCEPT
  293. ENBREL [Concomitant]
     Active Substance: ETANERCEPT
     Route: 058
  294. ENBREL [Concomitant]
     Active Substance: ETANERCEPT
     Route: 058
  295. ENBREL [Concomitant]
     Active Substance: ETANERCEPT
     Route: 058
  296. ENBREL [Concomitant]
     Active Substance: ETANERCEPT
     Route: 048
  297. ENBREL [Concomitant]
     Active Substance: ETANERCEPT
  298. ENBREL [Concomitant]
     Active Substance: ETANERCEPT
  299. ENBREL [Concomitant]
     Active Substance: ETANERCEPT
  300. ENBREL [Concomitant]
     Active Substance: ETANERCEPT
  301. ERELZI [Concomitant]
     Active Substance: ETANERCEPT-SZZS
     Indication: Rheumatoid arthritis
     Route: 058
  302. ERELZI [Concomitant]
     Active Substance: ETANERCEPT-SZZS
  303. ERELZI [Concomitant]
     Active Substance: ETANERCEPT-SZZS
     Route: 058
  304. ERELZI [Concomitant]
     Active Substance: ETANERCEPT-SZZS
     Route: 058
  305. ERELZI [Concomitant]
     Active Substance: ETANERCEPT-SZZS
     Route: 058
  306. ERELZI [Concomitant]
     Active Substance: ETANERCEPT-SZZS
     Route: 058
  307. ERELZI [Concomitant]
     Active Substance: ETANERCEPT-SZZS
  308. ERELZI [Concomitant]
     Active Substance: ETANERCEPT-SZZS
     Route: 058
  309. ERELZI [Concomitant]
     Active Substance: ETANERCEPT-SZZS
     Route: 058
  310. ERELZI [Concomitant]
     Active Substance: ETANERCEPT-SZZS
     Route: 058
  311. ERGOCALCIFEROL [Concomitant]
     Active Substance: ERGOCALCIFEROL
     Indication: Rheumatoid arthritis
  312. ERGOCALCIFEROL [Concomitant]
     Active Substance: ERGOCALCIFEROL
  313. FOLIC ACID [Concomitant]
     Active Substance: FOLIC ACID
     Indication: Rheumatoid arthritis
  314. FOLIC ACID [Concomitant]
     Active Substance: FOLIC ACID
  315. FOLIC ACID [Concomitant]
     Active Substance: FOLIC ACID
     Route: 058
  316. FOLIC ACID [Concomitant]
     Active Substance: FOLIC ACID
     Dosage: 25
  317. FOLIC ACID [Concomitant]
     Active Substance: FOLIC ACID
     Route: 048
  318. FOLIC ACID [Concomitant]
     Active Substance: FOLIC ACID
  319. FOLIC ACID [Concomitant]
     Active Substance: FOLIC ACID
  320. FOLIC ACID [Concomitant]
     Active Substance: FOLIC ACID
  321. FOLIC ACID [Concomitant]
     Active Substance: FOLIC ACID
     Route: 048
  322. FOLIC ACID [Concomitant]
     Active Substance: FOLIC ACID
  323. FOLIC ACID [Concomitant]
     Active Substance: FOLIC ACID
     Route: 058
  324. FOLIC ACID [Concomitant]
     Active Substance: FOLIC ACID
  325. FOLIC ACID [Concomitant]
     Active Substance: FOLIC ACID
     Route: 016
  326. FOLIC ACID [Concomitant]
     Active Substance: FOLIC ACID
     Route: 048
  327. FOLIC ACID [Concomitant]
     Active Substance: FOLIC ACID
     Route: 048
  328. FOLIC ACID [Concomitant]
     Active Substance: FOLIC ACID
     Route: 058
  329. FOLIC ACID [Concomitant]
     Active Substance: FOLIC ACID
  330. FOLIC ACID [Concomitant]
     Active Substance: FOLIC ACID
  331. FOLIC ACID [Concomitant]
     Active Substance: FOLIC ACID
     Route: 058
  332. FOLIC ACID [Concomitant]
     Active Substance: FOLIC ACID
     Route: 058
  333. FOLIC ACID [Concomitant]
     Active Substance: FOLIC ACID
     Route: 048
  334. FOLIC ACID [Concomitant]
     Active Substance: FOLIC ACID
     Route: 048
  335. FOLIC ACID [Concomitant]
     Active Substance: FOLIC ACID
     Route: 048
  336. FOLIC ACID [Concomitant]
     Active Substance: FOLIC ACID
  337. FOLIC ACID [Concomitant]
     Active Substance: FOLIC ACID
  338. FOLIC ACID [Concomitant]
     Active Substance: FOLIC ACID
  339. FOLIC ACID [Concomitant]
     Active Substance: FOLIC ACID
     Route: 048
  340. FOLIC ACID [Concomitant]
     Active Substance: FOLIC ACID
  341. FOLIC ACID [Concomitant]
     Active Substance: FOLIC ACID
     Route: 048
  342. FOLIC ACID [Concomitant]
     Active Substance: FOLIC ACID
     Route: 058
  343. FOLIC ACID [Concomitant]
     Active Substance: FOLIC ACID
  344. FOLIC ACID [Concomitant]
     Active Substance: FOLIC ACID
  345. FOLIC ACID [Concomitant]
     Active Substance: FOLIC ACID
  346. FOLIC ACID [Concomitant]
     Active Substance: FOLIC ACID
     Route: 048
  347. FOLIC ACID [Concomitant]
     Active Substance: FOLIC ACID
  348. FOLIC ACID [Concomitant]
     Active Substance: FOLIC ACID
  349. FOLIC ACID [Concomitant]
     Active Substance: FOLIC ACID
     Route: 048
  350. FOLIC ACID [Concomitant]
     Active Substance: FOLIC ACID
  351. FOLIC ACID [Concomitant]
     Active Substance: FOLIC ACID
     Route: 048
  352. FOLIC ACID [Concomitant]
     Active Substance: FOLIC ACID
  353. FOLIC ACID [Concomitant]
     Active Substance: FOLIC ACID
  354. FOLIC ACID [Concomitant]
     Active Substance: FOLIC ACID
  355. FOSAMAX [Concomitant]
     Active Substance: ALENDRONATE SODIUM
     Indication: Rheumatoid arthritis
     Route: 048
  356. FOSAMAX [Concomitant]
     Active Substance: ALENDRONATE SODIUM
     Route: 048
  357. FOSAMAX [Concomitant]
     Active Substance: ALENDRONATE SODIUM
     Route: 016
  358. FOSAMAX [Concomitant]
     Active Substance: ALENDRONATE SODIUM
     Route: 058
  359. FOSAMAX [Concomitant]
     Active Substance: ALENDRONATE SODIUM
     Route: 048
  360. FOSAMAX [Concomitant]
     Active Substance: ALENDRONATE SODIUM
     Route: 048
  361. FOSAMAX [Concomitant]
     Active Substance: ALENDRONATE SODIUM
  362. FOSAMAX [Concomitant]
     Active Substance: ALENDRONATE SODIUM
     Route: 005
  363. FOSAMAX [Concomitant]
     Active Substance: ALENDRONATE SODIUM
  364. FOSAMAX [Concomitant]
     Active Substance: ALENDRONATE SODIUM
     Route: 048
  365. FOSAMAX [Concomitant]
     Active Substance: ALENDRONATE SODIUM
     Route: 005
  366. FOSAMAX [Concomitant]
     Active Substance: ALENDRONATE SODIUM
     Route: 048
  367. FOSAMAX [Concomitant]
     Active Substance: ALENDRONATE SODIUM
     Route: 016
  368. FOSAMAX [Concomitant]
     Active Substance: ALENDRONATE SODIUM
     Route: 058
  369. GLUCOSAMINE [Concomitant]
     Active Substance: GLUCOSAMINE
     Indication: Rheumatoid arthritis
  370. GLUCOSAMINE [Concomitant]
     Active Substance: GLUCOSAMINE
     Route: 048
  371. HUMIRA [Concomitant]
     Active Substance: ADALIMUMAB
     Indication: Rheumatoid arthritis
     Dosage: SOLUTION SUBCUTANEOUS
     Route: 058
  372. HUMIRA [Concomitant]
     Active Substance: ADALIMUMAB
     Indication: Psoriatic arthropathy
     Route: 058
  373. HUMIRA [Concomitant]
     Active Substance: ADALIMUMAB
  374. HUMIRA [Concomitant]
     Active Substance: ADALIMUMAB
     Route: 058
  375. HUMIRA [Concomitant]
     Active Substance: ADALIMUMAB
     Route: 058
  376. HUMIRA [Concomitant]
     Active Substance: ADALIMUMAB
     Route: 058
  377. HUMIRA [Concomitant]
     Active Substance: ADALIMUMAB
     Route: 058
  378. HUMIRA [Concomitant]
     Active Substance: ADALIMUMAB
  379. HYDROCORTISONE PROBUTATE [Concomitant]
     Active Substance: HYDROCORTISONE PROBUTATE
     Indication: Rheumatoid arthritis
  380. HYDROXYCHLOROQUINE [Concomitant]
     Active Substance: HYDROXYCHLOROQUINE
     Indication: Rheumatoid arthritis
     Route: 048
  381. HYDROXYCHLOROQUINE [Concomitant]
     Active Substance: HYDROXYCHLOROQUINE
     Indication: Systemic lupus erythematosus
  382. HYDROXYCHLOROQUINE [Concomitant]
     Active Substance: HYDROXYCHLOROQUINE
     Dosage: 40
     Route: 066
  383. HYDROXYCHLOROQUINE [Concomitant]
     Active Substance: HYDROXYCHLOROQUINE
     Route: 005
  384. HYDROXYCHLOROQUINE [Concomitant]
     Active Substance: HYDROXYCHLOROQUINE
     Route: 058
  385. HYDROXYCHLOROQUINE [Concomitant]
     Active Substance: HYDROXYCHLOROQUINE
  386. HYDROXYCHLOROQUINE [Concomitant]
     Active Substance: HYDROXYCHLOROQUINE
  387. HYDROXYCHLOROQUINE [Concomitant]
     Active Substance: HYDROXYCHLOROQUINE
     Route: 048
  388. HYDROXYCHLOROQUINE [Concomitant]
     Active Substance: HYDROXYCHLOROQUINE
  389. HYDROXYCHLOROQUINE [Concomitant]
     Active Substance: HYDROXYCHLOROQUINE
     Route: 048
  390. HYDROXYCHLOROQUINE [Concomitant]
     Active Substance: HYDROXYCHLOROQUINE
     Route: 048
  391. HYDROXYCHLOROQUINE [Concomitant]
     Active Substance: HYDROXYCHLOROQUINE
  392. HYDROXYCHLOROQUINE [Concomitant]
     Active Substance: HYDROXYCHLOROQUINE
     Route: 066
  393. HYDROXYCHLOROQUINE [Concomitant]
     Active Substance: HYDROXYCHLOROQUINE
  394. HYDROXYCHLOROQUINE [Concomitant]
     Active Substance: HYDROXYCHLOROQUINE
     Route: 048
  395. HYDROXYCHLOROQUINE [Concomitant]
     Active Substance: HYDROXYCHLOROQUINE
     Route: 066
  396. HYDROXYCHLOROQUINE [Concomitant]
     Active Substance: HYDROXYCHLOROQUINE
  397. HYDROXYCHLOROQUINE SULFATE [Concomitant]
     Active Substance: HYDROXYCHLOROQUINE SULFATE
     Indication: Rheumatoid arthritis
  398. HYDROXYCHLOROQUINE SULFATE [Concomitant]
     Active Substance: HYDROXYCHLOROQUINE SULFATE
     Indication: Systemic lupus erythematosus
  399. HYDROXYCHLOROQUINE SULFATE [Concomitant]
     Active Substance: HYDROXYCHLOROQUINE SULFATE
     Route: 058
  400. HYDROXYCHLOROQUINE SULFATE [Concomitant]
     Active Substance: HYDROXYCHLOROQUINE SULFATE
     Route: 048
  401. HYDROXYCHLOROQUINE SULFATE [Concomitant]
     Active Substance: HYDROXYCHLOROQUINE SULFATE
     Route: 048
  402. HYDROXYCHLOROQUINE SULFATE [Concomitant]
     Active Substance: HYDROXYCHLOROQUINE SULFATE
     Route: 066
  403. HYDROXYCHLOROQUINE SULFATE [Concomitant]
     Active Substance: HYDROXYCHLOROQUINE SULFATE
  404. HYDROXYCHLOROQUINE SULFATE [Concomitant]
     Active Substance: HYDROXYCHLOROQUINE SULFATE
  405. HYDROXYCHLOROQUINE SULFATE [Concomitant]
     Active Substance: HYDROXYCHLOROQUINE SULFATE
     Route: 016
  406. HYDROXYCHLOROQUINE SULFATE [Concomitant]
     Active Substance: HYDROXYCHLOROQUINE SULFATE
     Route: 048
  407. HYDROXYCHLOROQUINE SULFATE [Concomitant]
     Active Substance: HYDROXYCHLOROQUINE SULFATE
  408. HYDROXYCHLOROQUINE SULFATE [Concomitant]
     Active Substance: HYDROXYCHLOROQUINE SULFATE
     Route: 048
  409. HYDROXYCHLOROQUINE SULFATE [Concomitant]
     Active Substance: HYDROXYCHLOROQUINE SULFATE
  410. HYDROXYCHLOROQUINE SULFATE [Concomitant]
     Active Substance: HYDROXYCHLOROQUINE SULFATE
  411. HYDROXYCHLOROQUINE SULFATE [Concomitant]
     Active Substance: HYDROXYCHLOROQUINE SULFATE
     Route: 066
  412. HYDROXYCHLOROQUINE SULFATE [Concomitant]
     Active Substance: HYDROXYCHLOROQUINE SULFATE
     Route: 048
  413. HYDROXYCHLOROQUINE SULFATE [Concomitant]
     Active Substance: HYDROXYCHLOROQUINE SULFATE
  414. HYDROXYCHLOROQUINE SULFATE [Concomitant]
     Active Substance: HYDROXYCHLOROQUINE SULFATE
  415. HYDROXYCHLOROQUINE SULFATE [Concomitant]
     Active Substance: HYDROXYCHLOROQUINE SULFATE
  416. HYDROXYCHLOROQUINE SULFATE [Concomitant]
     Active Substance: HYDROXYCHLOROQUINE SULFATE
     Route: 066
  417. HYDROXYCHLOROQUINE SULFATE [Concomitant]
     Active Substance: HYDROXYCHLOROQUINE SULFATE
     Route: 048
  418. HYDROXYCHLOROQUINE SULFATE [Concomitant]
     Active Substance: HYDROXYCHLOROQUINE SULFATE
  419. HYDROXYCHLOROQUINE SULFATE [Concomitant]
     Active Substance: HYDROXYCHLOROQUINE SULFATE
     Route: 048
  420. HYDROXYCHLOROQUINE SULFATE [Concomitant]
     Active Substance: HYDROXYCHLOROQUINE SULFATE
     Route: 066
  421. HYDROXYCHLOROQUINE SULFATE [Concomitant]
     Active Substance: HYDROXYCHLOROQUINE SULFATE
     Route: 048
  422. HYDROXYCHLOROQUINE SULFATE [Concomitant]
     Active Substance: HYDROXYCHLOROQUINE SULFATE
     Route: 048
  423. HYDROXYCHLOROQUINE SULFATE [Concomitant]
     Active Substance: HYDROXYCHLOROQUINE SULFATE
     Route: 066
  424. HYDROXYCHLOROQUINE SULFATE [Concomitant]
     Active Substance: HYDROXYCHLOROQUINE SULFATE
     Route: 048
  425. HYDROXYCHLOROQUINE SULFATE [Concomitant]
     Active Substance: HYDROXYCHLOROQUINE SULFATE
  426. HYDROXYCHLOROQUINE SULFATE [Concomitant]
     Active Substance: HYDROXYCHLOROQUINE SULFATE
  427. HYDROXYCHLOROQUINE SULFATE [Concomitant]
     Active Substance: HYDROXYCHLOROQUINE SULFATE
  428. HYDROXYCHLOROQUINE SULFATE [Concomitant]
     Active Substance: HYDROXYCHLOROQUINE SULFATE
  429. HYDROXYCHLOROQUINE SULFATE [Concomitant]
     Active Substance: HYDROXYCHLOROQUINE SULFATE
     Route: 048
  430. HYDROXYCHLOROQUINE SULFATE [Concomitant]
     Active Substance: HYDROXYCHLOROQUINE SULFATE
     Route: 058
  431. HYDROXYCHLOROQUINE SULFATE [Concomitant]
     Active Substance: HYDROXYCHLOROQUINE SULFATE
     Route: 048
  432. IBUPROFEN [Concomitant]
     Active Substance: IBUPROFEN
     Indication: Product used for unknown indication
  433. IBUPROFEN [Concomitant]
     Active Substance: IBUPROFEN
  434. INFLIXIMAB [Concomitant]
     Active Substance: INFLIXIMAB
     Indication: Rheumatoid arthritis
     Route: 042
  435. INFLIXIMAB [Concomitant]
     Active Substance: INFLIXIMAB
     Indication: Psoriatic arthropathy
     Route: 040
  436. INFLIXIMAB [Concomitant]
     Active Substance: INFLIXIMAB
     Indication: Colitis ulcerative
     Route: 040
  437. INFLIXIMAB [Concomitant]
     Active Substance: INFLIXIMAB
     Route: 040
  438. INFLIXIMAB [Concomitant]
     Active Substance: INFLIXIMAB
  439. KEVZARA [Concomitant]
     Active Substance: SARILUMAB
     Indication: Rheumatoid arthritis
  440. KEVZARA [Concomitant]
     Active Substance: SARILUMAB
     Route: 016
  441. KEVZARA [Concomitant]
     Active Substance: SARILUMAB
  442. LEFLUNOMIDE [Concomitant]
     Active Substance: LEFLUNOMIDE
     Indication: Rheumatoid arthritis
     Route: 048
  443. LEFLUNOMIDE [Concomitant]
     Active Substance: LEFLUNOMIDE
  444. LEFLUNOMIDE [Concomitant]
     Active Substance: LEFLUNOMIDE
     Route: 048
  445. LEFLUNOMIDE [Concomitant]
     Active Substance: LEFLUNOMIDE
  446. LEFLUNOMIDE [Concomitant]
     Active Substance: LEFLUNOMIDE
     Route: 048
  447. LEFLUNOMIDE [Concomitant]
     Active Substance: LEFLUNOMIDE
  448. LEFLUNOMIDE [Concomitant]
     Active Substance: LEFLUNOMIDE
  449. LEFLUNOMIDE [Concomitant]
     Active Substance: LEFLUNOMIDE
     Route: 048
  450. LEFLUNOMIDE [Concomitant]
     Active Substance: LEFLUNOMIDE
     Route: 048
  451. LEFLUNOMIDE [Concomitant]
     Active Substance: LEFLUNOMIDE
     Route: 048
  452. LEFLUNOMIDE [Concomitant]
     Active Substance: LEFLUNOMIDE
  453. LEFLUNOMIDE [Concomitant]
     Active Substance: LEFLUNOMIDE
  454. LANSOPRAZOLE [Concomitant]
     Active Substance: LANSOPRAZOLE
     Indication: Rheumatoid arthritis
     Dosage: CAPSULE, DELAYED RELEASE
     Route: 048
  455. LANSOPRAZOLE [Concomitant]
     Active Substance: LANSOPRAZOLE
     Dosage: CAPSULE, DELAYED RELEASE
  456. LEVOTHYROXINE SODIUM [Concomitant]
     Active Substance: LEVOTHYROXINE SODIUM
     Indication: Product used for unknown indication
  457. LEVOTHYROXINE SODIUM [Concomitant]
     Active Substance: LEVOTHYROXINE SODIUM
  458. LISINOPRIL [Concomitant]
     Active Substance: LISINOPRIL
     Indication: Product used for unknown indication
  459. LISINOPRIL [Concomitant]
     Active Substance: LISINOPRIL
  460. FLUMETHASONE PIVALATE [Concomitant]
     Active Substance: FLUMETHASONE PIVALATE
     Indication: Rheumatoid arthritis
     Route: 058
  461. FLUMETHASONE PIVALATE [Concomitant]
     Active Substance: FLUMETHASONE PIVALATE
     Dosage: LOCACORTEN .03%
  462. FLUMETHASONE PIVALATE [Concomitant]
     Active Substance: FLUMETHASONE PIVALATE
     Dosage: LOCACORTEN .03%
     Route: 058
  463. FLUMETHASONE PIVALATE [Concomitant]
     Active Substance: FLUMETHASONE PIVALATE
     Dosage: LOCACORTEN .03%
     Route: 003
  464. LYRICA [Concomitant]
     Active Substance: PREGABALIN
     Indication: Fibromyalgia
  465. LYRICA [Concomitant]
     Active Substance: PREGABALIN
     Route: 048
  466. MAGNESIUM CARBONATE [Concomitant]
     Active Substance: MAGNESIUM CARBONATE
     Indication: Product used for unknown indication
  467. MAGNESIUM CARBONATE [Concomitant]
     Active Substance: MAGNESIUM CARBONATE
     Route: 048
  468. MELOXICAM [Concomitant]
     Active Substance: MELOXICAM
     Indication: Product used for unknown indication
  469. MELOXICAM [Concomitant]
     Active Substance: MELOXICAM
  470. MELOXICAM [Concomitant]
     Active Substance: MELOXICAM
     Route: 048
  471. MELOXICAM [Concomitant]
     Active Substance: MELOXICAM
     Route: 048
  472. METHOTREXATE [Concomitant]
     Active Substance: METHOTREXATE
     Indication: Rheumatoid arthritis
     Route: 048
  473. METHOTREXATE [Concomitant]
     Active Substance: METHOTREXATE
  474. METHOTREXATE [Concomitant]
     Active Substance: METHOTREXATE
     Route: 058
  475. METHOTREXATE [Concomitant]
     Active Substance: METHOTREXATE
     Route: 013
  476. METHOTREXATE [Concomitant]
     Active Substance: METHOTREXATE
     Dosage: 20
     Route: 048
  477. METHOTREXATE [Concomitant]
     Active Substance: METHOTREXATE
     Route: 048
  478. METHOTREXATE [Concomitant]
     Active Substance: METHOTREXATE
     Route: 048
  479. METHOTREXATE [Concomitant]
     Active Substance: METHOTREXATE
     Route: 048
  480. METHOTREXATE [Concomitant]
     Active Substance: METHOTREXATE
     Route: 048
  481. METHOTREXATE [Concomitant]
     Active Substance: METHOTREXATE
     Route: 013
  482. METHOTREXATE [Concomitant]
     Active Substance: METHOTREXATE
  483. METHOTREXATE [Concomitant]
     Active Substance: METHOTREXATE
     Route: 058
  484. METHOTREXATE [Concomitant]
     Active Substance: METHOTREXATE
     Route: 048
  485. METHOTREXATE [Concomitant]
     Active Substance: METHOTREXATE
     Route: 048
  486. METHOTREXATE [Concomitant]
     Active Substance: METHOTREXATE
     Route: 058
  487. METHOTREXATE [Concomitant]
     Active Substance: METHOTREXATE
  488. METHOTREXATE [Concomitant]
     Active Substance: METHOTREXATE
     Route: 048
  489. METHOTREXATE [Concomitant]
     Active Substance: METHOTREXATE
     Route: 016
  490. METHOTREXATE [Concomitant]
     Active Substance: METHOTREXATE
  491. METHOTREXATE [Concomitant]
     Active Substance: METHOTREXATE
     Route: 013
  492. METHOTREXATE [Concomitant]
     Active Substance: METHOTREXATE
     Route: 048
  493. METHOTREXATE [Concomitant]
     Active Substance: METHOTREXATE
     Route: 048
  494. METHOTREXATE SODIUM [Concomitant]
     Active Substance: METHOTREXATE SODIUM
     Indication: Rheumatoid arthritis
  495. METHOTREXATE SODIUM [Concomitant]
     Active Substance: METHOTREXATE SODIUM
     Indication: Psoriatic arthropathy
     Route: 058
  496. METHOTREXATE SODIUM [Concomitant]
     Active Substance: METHOTREXATE SODIUM
  497. METHOTREXATE SODIUM [Concomitant]
     Active Substance: METHOTREXATE SODIUM
     Route: 048
  498. METHOTREXATE SODIUM [Concomitant]
     Active Substance: METHOTREXATE SODIUM
     Route: 048
  499. METHOTREXATE SODIUM [Concomitant]
     Active Substance: METHOTREXATE SODIUM
     Route: 048
  500. METHOTREXATE SODIUM [Concomitant]
     Active Substance: METHOTREXATE SODIUM
     Route: 048
  501. METHOTREXATE SODIUM [Concomitant]
     Active Substance: METHOTREXATE SODIUM
     Route: 048
  502. METHOTREXATE SODIUM [Concomitant]
     Active Substance: METHOTREXATE SODIUM
     Route: 048
  503. METHOTREXATE SODIUM [Concomitant]
     Active Substance: METHOTREXATE SODIUM
     Route: 048
  504. METHOTREXATE SODIUM [Concomitant]
     Active Substance: METHOTREXATE SODIUM
  505. METHOTREXATE SODIUM [Concomitant]
     Active Substance: METHOTREXATE SODIUM
  506. METHOTREXATE SODIUM [Concomitant]
     Active Substance: METHOTREXATE SODIUM
     Route: 048
  507. METHOTREXATE SODIUM [Concomitant]
     Active Substance: METHOTREXATE SODIUM
  508. METHOTREXATE SODIUM [Concomitant]
     Active Substance: METHOTREXATE SODIUM
     Route: 048
  509. METHOTREXATE SODIUM [Concomitant]
     Active Substance: METHOTREXATE SODIUM
  510. METHOTREXATE SODIUM [Concomitant]
     Active Substance: METHOTREXATE SODIUM
     Route: 048
  511. METHOTREXATE SODIUM [Concomitant]
     Active Substance: METHOTREXATE SODIUM
     Route: 058
  512. METHOTREXATE SODIUM [Concomitant]
     Active Substance: METHOTREXATE SODIUM
     Route: 048
  513. METHOTREXATE SODIUM [Concomitant]
     Active Substance: METHOTREXATE SODIUM
     Route: 048
  514. METHOTREXATE SODIUM [Concomitant]
     Active Substance: METHOTREXATE SODIUM
  515. METHOTREXATE SODIUM [Concomitant]
     Active Substance: METHOTREXATE SODIUM
  516. METHOTREXATE SODIUM [Concomitant]
     Active Substance: METHOTREXATE SODIUM
     Route: 048
  517. METHOTREXATE SODIUM [Concomitant]
     Active Substance: METHOTREXATE SODIUM
  518. METHOTREXATE SODIUM [Concomitant]
     Active Substance: METHOTREXATE SODIUM
     Route: 013
  519. METHOTREXATE SODIUM [Concomitant]
     Active Substance: METHOTREXATE SODIUM
     Route: 013
  520. METHOTREXATE SODIUM [Concomitant]
     Active Substance: METHOTREXATE SODIUM
     Route: 048
  521. METHOTREXATE SODIUM [Concomitant]
     Active Substance: METHOTREXATE SODIUM
  522. METHOTREXATE SODIUM [Concomitant]
     Active Substance: METHOTREXATE SODIUM
  523. METHOTREXATE SODIUM [Concomitant]
     Active Substance: METHOTREXATE SODIUM
     Route: 058
  524. METHOTREXATE SODIUM [Concomitant]
     Active Substance: METHOTREXATE SODIUM
     Route: 048
  525. METHOTREXATE SODIUM [Concomitant]
     Active Substance: METHOTREXATE SODIUM
     Route: 048
  526. METHOTREXATE SODIUM [Concomitant]
     Active Substance: METHOTREXATE SODIUM
     Route: 048
  527. METHOTREXATE SODIUM [Concomitant]
     Active Substance: METHOTREXATE SODIUM
  528. METHOTREXATE SODIUM [Concomitant]
     Active Substance: METHOTREXATE SODIUM
     Route: 048
  529. METHOTREXATE SODIUM [Concomitant]
     Active Substance: METHOTREXATE SODIUM
  530. METHOTREXATE SODIUM [Concomitant]
     Active Substance: METHOTREXATE SODIUM
     Route: 048
  531. METHOTREXATE SODIUM [Concomitant]
     Active Substance: METHOTREXATE SODIUM
  532. METHOTREXATE SODIUM [Concomitant]
     Active Substance: METHOTREXATE SODIUM
     Route: 048
  533. METHOTREXATE SODIUM [Concomitant]
     Active Substance: METHOTREXATE SODIUM
     Route: 040
  534. METHOTREXATE SODIUM [Concomitant]
     Active Substance: METHOTREXATE SODIUM
     Route: 048
  535. METHOTREXATE SODIUM [Concomitant]
     Active Substance: METHOTREXATE SODIUM
     Route: 013
  536. METHOTREXATE SODIUM [Concomitant]
     Active Substance: METHOTREXATE SODIUM
     Route: 048
  537. METHOTREXATE SODIUM [Concomitant]
     Active Substance: METHOTREXATE SODIUM
     Route: 048
  538. METHOTREXATE SODIUM [Concomitant]
     Active Substance: METHOTREXATE SODIUM
  539. METHOTREXATE SODIUM [Concomitant]
     Active Substance: METHOTREXATE SODIUM
     Route: 048
  540. METHOTREXATE SODIUM [Concomitant]
     Active Substance: METHOTREXATE SODIUM
     Route: 048
  541. METHOTREXATE SODIUM [Concomitant]
     Active Substance: METHOTREXATE SODIUM
     Route: 048
  542. METHOTREXATE SODIUM [Concomitant]
     Active Substance: METHOTREXATE SODIUM
     Route: 048
  543. METHOTREXATE SODIUM [Concomitant]
     Active Substance: METHOTREXATE SODIUM
     Route: 048
  544. METHOTREXATE SODIUM [Concomitant]
     Active Substance: METHOTREXATE SODIUM
     Route: 048
  545. METHOTREXATE SODIUM [Concomitant]
     Active Substance: METHOTREXATE SODIUM
     Route: 048
  546. METHOTREXATE SODIUM [Concomitant]
     Active Substance: METHOTREXATE SODIUM
     Route: 013
  547. METHOTREXATE SODIUM [Concomitant]
     Active Substance: METHOTREXATE SODIUM
     Route: 013
  548. METHOTREXATE SODIUM [Concomitant]
     Active Substance: METHOTREXATE SODIUM
     Route: 048
  549. METHOTREXATE SODIUM [Concomitant]
     Active Substance: METHOTREXATE SODIUM
     Route: 048
  550. METHOTREXATE SODIUM [Concomitant]
     Active Substance: METHOTREXATE SODIUM
     Route: 048
  551. METHOTREXATE SODIUM [Concomitant]
     Active Substance: METHOTREXATE SODIUM
     Route: 048
  552. METHOTREXATE SODIUM [Concomitant]
     Active Substance: METHOTREXATE SODIUM
  553. METHOTREXATE SODIUM [Concomitant]
     Active Substance: METHOTREXATE SODIUM
     Route: 048
  554. METHOTREXATE SODIUM [Concomitant]
     Active Substance: METHOTREXATE SODIUM
     Route: 048
  555. METHOTREXATE SODIUM [Concomitant]
     Active Substance: METHOTREXATE SODIUM
     Route: 048
  556. METHOTREXATE SODIUM [Concomitant]
     Active Substance: METHOTREXATE SODIUM
  557. METHOTREXATE SODIUM [Concomitant]
     Active Substance: METHOTREXATE SODIUM
     Route: 048
  558. METHOTREXATE SODIUM [Concomitant]
     Active Substance: METHOTREXATE SODIUM
     Route: 013
  559. METHOTREXATE SODIUM [Concomitant]
     Active Substance: METHOTREXATE SODIUM
     Route: 016
  560. METHOTREXATE SODIUM [Concomitant]
     Active Substance: METHOTREXATE SODIUM
     Route: 048
  561. MYCOPHENOLATE MOFETIL [Concomitant]
     Active Substance: MYCOPHENOLATE MOFETIL
     Indication: Rheumatoid arthritis
  562. MYCOPHENOLATE MOFETIL [Concomitant]
     Active Substance: MYCOPHENOLATE MOFETIL
  563. NAPROXEN SODIUM [Concomitant]
     Active Substance: NAPROXEN SODIUM
     Indication: Rheumatoid arthritis
  564. NAPROXEN SODIUM [Concomitant]
     Active Substance: NAPROXEN SODIUM
     Indication: Headache
  565. NAPROXEN SODIUM [Concomitant]
     Active Substance: NAPROXEN SODIUM
  566. NAPROXEN SODIUM [Concomitant]
     Active Substance: NAPROXEN SODIUM
  567. NAPROXEN SODIUM [Concomitant]
     Active Substance: NAPROXEN SODIUM
  568. NEOMYCIN [Concomitant]
     Active Substance: NEOMYCIN
     Indication: Product used for unknown indication
  569. OTEZLA [Concomitant]
     Active Substance: APREMILAST
     Indication: Rheumatoid arthritis
     Route: 048
  570. OTEZLA [Concomitant]
     Active Substance: APREMILAST
     Indication: Psoriasis
     Route: 048
  571. OTEZLA [Concomitant]
     Active Substance: APREMILAST
  572. OTEZLA [Concomitant]
     Active Substance: APREMILAST
     Route: 048
  573. OTEZLA [Concomitant]
     Active Substance: APREMILAST
     Route: 048
  574. OTEZLA [Concomitant]
     Active Substance: APREMILAST
     Route: 048
  575. OTEZLA [Concomitant]
     Active Substance: APREMILAST
  576. OTEZLA [Concomitant]
     Active Substance: APREMILAST
  577. OTEZLA [Concomitant]
     Active Substance: APREMILAST
  578. OTEZLA [Concomitant]
     Active Substance: APREMILAST
  579. OXYCODONE [Concomitant]
     Active Substance: OXYCODONE
     Indication: Product used for unknown indication
  580. OXYCODONE [Concomitant]
     Active Substance: OXYCODONE
  581. OXYCODONE TEREPHTHALATE [Concomitant]
     Active Substance: OXYCODONE TEREPHTHALATE
     Indication: Product used for unknown indication
  582. OXYCODONE TEREPHTHALATE [Concomitant]
     Active Substance: OXYCODONE TEREPHTHALATE
  583. PANTOPRAZOLE SODIUM [Concomitant]
     Active Substance: PANTOPRAZOLE SODIUM
     Indication: Product used for unknown indication
  584. PANTOPRAZOLE SODIUM [Concomitant]
     Active Substance: PANTOPRAZOLE SODIUM
  585. PERIOGARD [Concomitant]
     Active Substance: CHLORHEXIDINE GLUCONATE
     Indication: Rheumatoid arthritis
     Route: 002
  586. PERIOGARD [Concomitant]
     Active Substance: CHLORHEXIDINE GLUCONATE
     Route: 002
  587. PHTHALYLSULFATHIAZOLE [Concomitant]
     Active Substance: PHTHALYLSULFATHIAZOLE
     Indication: Rheumatoid arthritis
     Route: 016
  588. PHTHALYLSULFATHIAZOLE [Concomitant]
     Active Substance: PHTHALYLSULFATHIAZOLE
     Route: 048
  589. PHTHALYLSULFATHIAZOLE [Concomitant]
     Active Substance: PHTHALYLSULFATHIAZOLE
  590. PHTHALYLSULFATHIAZOLE [Concomitant]
     Active Substance: PHTHALYLSULFATHIAZOLE
     Route: 042
  591. PHTHALYLSULFATHIAZOLE [Concomitant]
     Active Substance: PHTHALYLSULFATHIAZOLE
  592. PHTHALYLSULFATHIAZOLE [Concomitant]
     Active Substance: PHTHALYLSULFATHIAZOLE
     Route: 016
  593. PHTHALYLSULFATHIAZOLE [Concomitant]
     Active Substance: PHTHALYLSULFATHIAZOLE
     Route: 048
  594. PHTHALYLSULFATHIAZOLE [Concomitant]
     Active Substance: PHTHALYLSULFATHIAZOLE
     Route: 058
  595. PHTHALYLSULFATHIAZOLE [Concomitant]
     Active Substance: PHTHALYLSULFATHIAZOLE
     Route: 048
  596. PHTHALYLSULFATHIAZOLE [Concomitant]
     Active Substance: PHTHALYLSULFATHIAZOLE
  597. PHTHALYLSULFATHIAZOLE [Concomitant]
     Active Substance: PHTHALYLSULFATHIAZOLE
     Route: 042
  598. PIROXICAM [Concomitant]
     Active Substance: PIROXICAM
     Indication: Product used for unknown indication
  599. PIROXICAM [Concomitant]
     Active Substance: PIROXICAM
  600. PLAQUENIL [Concomitant]
     Active Substance: HYDROXYCHLOROQUINE SULFATE
     Indication: Rheumatoid arthritis
  601. PLAQUENIL [Concomitant]
     Active Substance: HYDROXYCHLOROQUINE SULFATE
  602. PLAQUENIL [Concomitant]
     Active Substance: HYDROXYCHLOROQUINE SULFATE
  603. PLAQUENIL [Concomitant]
     Active Substance: HYDROXYCHLOROQUINE SULFATE
     Route: 048
  604. PLAQUENIL [Concomitant]
     Active Substance: HYDROXYCHLOROQUINE SULFATE
  605. PLAQUENIL [Concomitant]
     Active Substance: HYDROXYCHLOROQUINE SULFATE
  606. PLAQUENIL [Concomitant]
     Active Substance: HYDROXYCHLOROQUINE SULFATE
  607. PLAQUENIL [Concomitant]
     Active Substance: HYDROXYCHLOROQUINE SULFATE
     Route: 048
  608. PLAQUENIL [Concomitant]
     Active Substance: HYDROXYCHLOROQUINE SULFATE
     Route: 048
  609. PLAQUENIL [Concomitant]
     Active Substance: HYDROXYCHLOROQUINE SULFATE
     Route: 048
  610. PLAQUENIL [Concomitant]
     Active Substance: HYDROXYCHLOROQUINE SULFATE
     Route: 048
  611. PREDNISOLONE [Concomitant]
     Active Substance: PREDNISOLONE
     Indication: Rheumatoid arthritis
     Route: 048
  612. PREDNISOLONE [Concomitant]
     Active Substance: PREDNISOLONE
     Indication: Psoriatic arthropathy
     Route: 042
  613. PREDNISOLONE [Concomitant]
     Active Substance: PREDNISOLONE
     Indication: Condition aggravated
     Route: 048
  614. PREDNISOLONE [Concomitant]
     Active Substance: PREDNISOLONE
  615. PREDNISOLONE [Concomitant]
     Active Substance: PREDNISOLONE
     Route: 048
  616. PREDNISOLONE [Concomitant]
     Active Substance: PREDNISOLONE
     Route: 048
  617. PREDNISOLONE [Concomitant]
     Active Substance: PREDNISOLONE
     Route: 016
  618. PREDNISOLONE [Concomitant]
     Active Substance: PREDNISOLONE
  619. PREDNISOLONE [Concomitant]
     Active Substance: PREDNISOLONE
     Route: 058
  620. PREDNISOLONE [Concomitant]
     Active Substance: PREDNISOLONE
     Route: 048
  621. PREDNISOLONE [Concomitant]
     Active Substance: PREDNISOLONE
  622. PSEUDOEPHEDRINE HYDROCHLORIDE [Concomitant]
     Active Substance: PSEUDOEPHEDRINE HYDROCHLORIDE
     Indication: Rheumatoid arthritis
  623. PSEUDOEPHEDRINE HYDROCHLORIDE [Concomitant]
     Active Substance: PSEUDOEPHEDRINE HYDROCHLORIDE
  624. PSEUDOEPHEDRINE HYDROCHLORIDE [Concomitant]
     Active Substance: PSEUDOEPHEDRINE HYDROCHLORIDE
  625. PSEUDOEPHEDRINE HYDROCHLORIDE [Concomitant]
     Active Substance: PSEUDOEPHEDRINE HYDROCHLORIDE
  626. QUETIAPINE [Concomitant]
     Active Substance: QUETIAPINE
     Indication: Rheumatoid arthritis
  627. QUETIAPINE [Concomitant]
     Active Substance: QUETIAPINE
     Route: 048
  628. QUETIAPINE [Concomitant]
     Active Substance: QUETIAPINE
  629. QUETIAPINE [Concomitant]
     Active Substance: QUETIAPINE
     Route: 003
  630. RAMIPRIL [Concomitant]
     Active Substance: RAMIPRIL
     Indication: Product used for unknown indication
  631. RAMIPRIL [Concomitant]
     Active Substance: RAMIPRIL
     Indication: Rheumatoid arthritis
     Route: 016
  632. RAMIPRIL [Concomitant]
     Active Substance: RAMIPRIL
  633. RAMIPRIL [Concomitant]
     Active Substance: RAMIPRIL
     Route: 040
  634. CETIRIZINE HYDROCHLORIDE [Concomitant]
     Active Substance: CETIRIZINE HYDROCHLORIDE
     Indication: Rheumatoid arthritis
  635. CETIRIZINE HYDROCHLORIDE [Concomitant]
     Active Substance: CETIRIZINE HYDROCHLORIDE
     Indication: Urticaria
     Route: 048
  636. CETIRIZINE HYDROCHLORIDE [Concomitant]
     Active Substance: CETIRIZINE HYDROCHLORIDE
  637. CETIRIZINE HYDROCHLORIDE [Concomitant]
     Active Substance: CETIRIZINE HYDROCHLORIDE
  638. CETIRIZINE HYDROCHLORIDE [Concomitant]
     Active Substance: CETIRIZINE HYDROCHLORIDE
     Route: 048
  639. CETIRIZINE HYDROCHLORIDE [Concomitant]
     Active Substance: CETIRIZINE HYDROCHLORIDE
  640. CETIRIZINE HYDROCHLORIDE [Concomitant]
     Active Substance: CETIRIZINE HYDROCHLORIDE
     Route: 048
  641. CETIRIZINE HYDROCHLORIDE [Concomitant]
     Active Substance: CETIRIZINE HYDROCHLORIDE
  642. CETIRIZINE HYDROCHLORIDE [Concomitant]
     Active Substance: CETIRIZINE HYDROCHLORIDE
     Route: 040
  643. CETIRIZINE HYDROCHLORIDE [Concomitant]
     Active Substance: CETIRIZINE HYDROCHLORIDE
     Route: 048
  644. CETIRIZINE HYDROCHLORIDE [Concomitant]
     Active Substance: CETIRIZINE HYDROCHLORIDE
     Route: 016
  645. CETIRIZINE HYDROCHLORIDE\PSEUDOEPHEDRINE HYDROCHLORIDE [Concomitant]
     Active Substance: CETIRIZINE HYDROCHLORIDE\PSEUDOEPHEDRINE HYDROCHLORIDE
     Indication: Rheumatoid arthritis
     Dosage: TABLET (EXTENDED-RELEASE)
  646. CETIRIZINE HYDROCHLORIDE\PSEUDOEPHEDRINE HYDROCHLORIDE [Concomitant]
     Active Substance: CETIRIZINE HYDROCHLORIDE\PSEUDOEPHEDRINE HYDROCHLORIDE
     Dosage: TABLET (EXTENDED-RELEASE)
  647. CETIRIZINE HYDROCHLORIDE\PSEUDOEPHEDRINE HYDROCHLORIDE [Concomitant]
     Active Substance: CETIRIZINE HYDROCHLORIDE\PSEUDOEPHEDRINE HYDROCHLORIDE
     Dosage: TABLET (EXTENDED-RELEASE)
  648. CETIRIZINE HYDROCHLORIDE\PSEUDOEPHEDRINE HYDROCHLORIDE [Concomitant]
     Active Substance: CETIRIZINE HYDROCHLORIDE\PSEUDOEPHEDRINE HYDROCHLORIDE
     Dosage: TABLET (EXTENDED-RELEASE)
     Route: 048
  649. CETIRIZINE HYDROCHLORIDE\PSEUDOEPHEDRINE HYDROCHLORIDE [Concomitant]
     Active Substance: CETIRIZINE HYDROCHLORIDE\PSEUDOEPHEDRINE HYDROCHLORIDE
     Dosage: TABLET (EXTENDED-RELEASE)
  650. CETIRIZINE HYDROCHLORIDE\PSEUDOEPHEDRINE HYDROCHLORIDE [Concomitant]
     Active Substance: CETIRIZINE HYDROCHLORIDE\PSEUDOEPHEDRINE HYDROCHLORIDE
     Dosage: TABLET (EXTENDED-RELEASE)
     Route: 048
  651. CETIRIZINE HYDROCHLORIDE\PSEUDOEPHEDRINE HYDROCHLORIDE [Concomitant]
     Active Substance: CETIRIZINE HYDROCHLORIDE\PSEUDOEPHEDRINE HYDROCHLORIDE
  652. CETIRIZINE HYDROCHLORIDE\PSEUDOEPHEDRINE HYDROCHLORIDE [Concomitant]
     Active Substance: CETIRIZINE HYDROCHLORIDE\PSEUDOEPHEDRINE HYDROCHLORIDE
     Indication: Rheumatoid arthritis
     Dosage: TABLET (EXTENDED-RELEASE)
     Route: 048
  653. CETIRIZINE HYDROCHLORIDE\PSEUDOEPHEDRINE HYDROCHLORIDE [Concomitant]
     Active Substance: CETIRIZINE HYDROCHLORIDE\PSEUDOEPHEDRINE HYDROCHLORIDE
     Dosage: TABLET (EXTENDED-RELEASE)
  654. CETIRIZINE HYDROCHLORIDE\PSEUDOEPHEDRINE HYDROCHLORIDE [Concomitant]
     Active Substance: CETIRIZINE HYDROCHLORIDE\PSEUDOEPHEDRINE HYDROCHLORIDE
     Dosage: TABLET (EXTENDED-RELEASE)
     Route: 048
  655. CETIRIZINE HYDROCHLORIDE\PSEUDOEPHEDRINE HYDROCHLORIDE [Concomitant]
     Active Substance: CETIRIZINE HYDROCHLORIDE\PSEUDOEPHEDRINE HYDROCHLORIDE
     Dosage: TABLET (EXTENDED-RELEASE)
     Route: 016
  656. CETIRIZINE HYDROCHLORIDE\PSEUDOEPHEDRINE HYDROCHLORIDE [Concomitant]
     Active Substance: CETIRIZINE HYDROCHLORIDE\PSEUDOEPHEDRINE HYDROCHLORIDE
     Route: 005
  657. REMICADE [Concomitant]
     Active Substance: INFLIXIMAB
     Indication: Rheumatoid arthritis
     Dosage: POWDER FOR SOLUTION INTRAVENOUS
  658. REMICADE [Concomitant]
     Active Substance: INFLIXIMAB
     Indication: Colitis ulcerative
     Dosage: POWDER FORSOLUTION INTRAVENOUS
     Route: 042
  659. REMICADE [Concomitant]
     Active Substance: INFLIXIMAB
     Indication: Psoriatic arthropathy
     Route: 042
  660. REMICADE [Concomitant]
     Active Substance: INFLIXIMAB
     Indication: Crohn^s disease
     Route: 042
  661. REMICADE [Concomitant]
     Active Substance: INFLIXIMAB
     Indication: Ankylosing spondylitis
     Route: 042
  662. REMICADE [Concomitant]
     Active Substance: INFLIXIMAB
     Route: 042
  663. REMICADE [Concomitant]
     Active Substance: INFLIXIMAB
  664. REMICADE [Concomitant]
     Active Substance: INFLIXIMAB
  665. REMICADE [Concomitant]
     Active Substance: INFLIXIMAB
  666. REMICADE [Concomitant]
     Active Substance: INFLIXIMAB
     Route: 040
  667. REMICADE [Concomitant]
     Active Substance: INFLIXIMAB
     Route: 040
  668. REMICADE [Concomitant]
     Active Substance: INFLIXIMAB
     Dosage: POWDER FOR SOLUTION
     Route: 040
  669. RISEDRONATE SODIUM [Concomitant]
     Active Substance: RISEDRONATE SODIUM
     Indication: Product used for unknown indication
  670. RISEDRONATE SODIUM [Concomitant]
     Active Substance: RISEDRONATE SODIUM
  671. RITUXIMAB [Concomitant]
     Active Substance: RITUXIMAB
     Indication: Rheumatoid arthritis
     Route: 040
  672. RITUXIMAB [Concomitant]
     Active Substance: RITUXIMAB
     Indication: Abdominal discomfort
     Route: 058
  673. RITUXIMAB [Concomitant]
     Active Substance: RITUXIMAB
     Route: 058
  674. RITUXIMAB [Concomitant]
     Active Substance: RITUXIMAB
     Route: 040
  675. RITUXIMAB [Concomitant]
     Active Substance: RITUXIMAB
     Route: 048
  676. RITUXIMAB [Concomitant]
     Active Substance: RITUXIMAB
     Route: 040
  677. RITUXIMAB [Concomitant]
     Active Substance: RITUXIMAB
     Route: 048
  678. RITUXIMAB [Concomitant]
     Active Substance: RITUXIMAB
     Route: 048
  679. RITUXIMAB [Concomitant]
     Active Substance: RITUXIMAB
     Route: 058
  680. RITUXIMAB [Concomitant]
     Active Substance: RITUXIMAB
  681. RITUXIMAB [Concomitant]
     Active Substance: RITUXIMAB
  682. RITUXIMAB [Concomitant]
     Active Substance: RITUXIMAB
     Route: 040
  683. RITUXIMAB [Concomitant]
     Active Substance: RITUXIMAB
     Route: 040
  684. RITUXIMAB [Concomitant]
     Active Substance: RITUXIMAB
     Route: 048
  685. RITUXIMAB [Concomitant]
     Active Substance: RITUXIMAB
     Route: 016
  686. RITUXIMAB [Concomitant]
     Active Substance: RITUXIMAB
  687. RITUXIMAB [Concomitant]
     Active Substance: RITUXIMAB
     Route: 043
  688. RITUXIMAB [Concomitant]
     Active Substance: RITUXIMAB
     Route: 040
  689. SULFASALAZINE [Concomitant]
     Active Substance: SULFASALAZINE
     Indication: Rheumatoid arthritis
  690. SULFASALAZINE [Concomitant]
     Active Substance: SULFASALAZINE
     Route: 048
  691. FISH OIL [Concomitant]
     Active Substance: FISH OIL
     Indication: Rheumatoid arthritis
  692. FISH OIL [Concomitant]
     Active Substance: FISH OIL
  693. SIMPONI [Concomitant]
     Active Substance: GOLIMUMAB
     Indication: Rheumatoid arthritis
     Dosage: SOLUTION SUBCUTANEOUS
     Route: 042
  694. SIMPONI [Concomitant]
     Active Substance: GOLIMUMAB
     Indication: Psoriatic arthropathy
     Dosage: SOLUTION SUBCUTANEOUS
  695. SIMPONI [Concomitant]
     Active Substance: GOLIMUMAB
     Indication: Prostatic specific antigen
     Dosage: SOLUTION SUBCUTANEOUS
     Route: 058
  696. SIMPONI [Concomitant]
     Active Substance: GOLIMUMAB
     Dosage: SOLUTION SUBCUTANEOUS
     Route: 058
  697. SIMPONI [Concomitant]
     Active Substance: GOLIMUMAB
     Dosage: SOLUTION SUBCUTANEOUS
     Route: 048
  698. SIMPONI [Concomitant]
     Active Substance: GOLIMUMAB
     Dosage: SOLUTION SUBCUTANEOUS
     Route: 042
  699. SIMPONI [Concomitant]
     Active Substance: GOLIMUMAB
     Dosage: SOLUTION SUBCUTANEOUS
     Route: 058
  700. SIMPONI [Concomitant]
     Active Substance: GOLIMUMAB
     Route: 058
  701. STELARA [Concomitant]
     Active Substance: USTEKINUMAB
     Indication: Psoriatic arthropathy
     Dosage: SOLUTION SUBCUTANEOUS
     Route: 058
  702. STELARA [Concomitant]
     Active Substance: USTEKINUMAB
     Indication: Rheumatoid arthritis
     Dosage: SOLUTION SUBCUTANEOUS
     Route: 042
  703. STELARA [Concomitant]
     Active Substance: USTEKINUMAB
     Dosage: SOLUTION SUBCUTANEOUS
     Route: 058
  704. STELARA [Concomitant]
     Active Substance: USTEKINUMAB
     Dosage: SOLUTION SUBCUTANEOUS
  705. STELARA [Concomitant]
     Active Substance: USTEKINUMAB
     Dosage: SOLUTION SUBCUTANEOUS
     Route: 042
  706. STELARA [Concomitant]
     Active Substance: USTEKINUMAB
     Dosage: SOLUTION SUBCUTANEOUS
     Route: 058
  707. SULFAMETHOXAZOLE [Concomitant]
     Active Substance: SULFAMETHOXAZOLE
     Indication: Product used for unknown indication
  708. SULFAMETHOXAZOLE [Concomitant]
     Active Substance: SULFAMETHOXAZOLE
  709. SULFAMETHOXAZOLE AND TRIMETHOPRIM [Concomitant]
     Active Substance: SULFAMETHOXAZOLE\TRIMETHOPRIM
     Indication: Product used for unknown indication
  710. SULFAMETHOXAZOLE AND TRIMETHOPRIM [Concomitant]
     Active Substance: SULFAMETHOXAZOLE\TRIMETHOPRIM
  711. SULFASALAZINE [Concomitant]
     Active Substance: SULFASALAZINE
     Indication: Rheumatoid arthritis
     Route: 048
  712. SULFASALAZINE [Concomitant]
     Active Substance: SULFASALAZINE
  713. SULFASALAZINE [Concomitant]
     Active Substance: SULFASALAZINE
  714. SULFASALAZINE [Concomitant]
     Active Substance: SULFASALAZINE
     Dosage: 2000
     Route: 048
  715. SULFASALAZINE [Concomitant]
     Active Substance: SULFASALAZINE
     Dosage: 500
     Route: 048
  716. SULFASALAZINE [Concomitant]
     Active Substance: SULFASALAZINE
     Route: 048
  717. SULFASALAZINE [Concomitant]
     Active Substance: SULFASALAZINE
     Route: 048
  718. SULFASALAZINE [Concomitant]
     Active Substance: SULFASALAZINE
     Route: 058
  719. SULFASALAZINE [Concomitant]
     Active Substance: SULFASALAZINE
  720. SULFASALAZINE [Concomitant]
     Active Substance: SULFASALAZINE
     Route: 048
  721. SULFASALAZINE [Concomitant]
     Active Substance: SULFASALAZINE
  722. SULFASALAZINE [Concomitant]
     Active Substance: SULFASALAZINE
  723. SULFASALAZINE [Concomitant]
     Active Substance: SULFASALAZINE
     Route: 048
  724. SULFASALAZINE [Concomitant]
     Active Substance: SULFASALAZINE
  725. SULFASALAZINE [Concomitant]
     Active Substance: SULFASALAZINE
  726. SULFASALAZINE [Concomitant]
     Active Substance: SULFASALAZINE
     Route: 048
  727. SULFASALAZINE [Concomitant]
     Active Substance: SULFASALAZINE
  728. SULFASALAZINE [Concomitant]
     Active Substance: SULFASALAZINE
  729. SULFASALAZINE [Concomitant]
     Active Substance: SULFASALAZINE
     Route: 048
  730. SULFASALAZINE [Concomitant]
     Active Substance: SULFASALAZINE
     Route: 048
  731. SULFASALAZINE [Concomitant]
     Active Substance: SULFASALAZINE
     Route: 048
  732. SULFASALAZINE [Concomitant]
     Active Substance: SULFASALAZINE
  733. SULFASALAZINE [Concomitant]
     Active Substance: SULFASALAZINE
     Route: 048
  734. SULFASALAZINE [Concomitant]
     Active Substance: SULFASALAZINE
     Route: 048
  735. SULFASALAZINE [Concomitant]
     Active Substance: SULFASALAZINE
     Route: 048
  736. SULFASALAZINE [Concomitant]
     Active Substance: SULFASALAZINE
  737. SULFASALAZINE [Concomitant]
     Active Substance: SULFASALAZINE
  738. SULFASALAZINE [Concomitant]
     Active Substance: SULFASALAZINE
     Route: 048
  739. SULFASALAZINE [Concomitant]
     Active Substance: SULFASALAZINE
     Route: 048
  740. SULFASALAZINE [Concomitant]
     Active Substance: SULFASALAZINE
     Route: 058
  741. SULFASALAZINE [Concomitant]
     Active Substance: SULFASALAZINE
  742. SULFASALAZINE [Concomitant]
     Active Substance: SULFASALAZINE
     Route: 048
  743. SULFASALAZINE [Concomitant]
     Active Substance: SULFASALAZINE
  744. TRAMADOL HYDROCHLORIDE [Concomitant]
     Active Substance: TRAMADOL HYDROCHLORIDE
     Indication: Product used for unknown indication
  745. TYLENOL [Concomitant]
     Active Substance: ACETAMINOPHEN
     Indication: Product used for unknown indication
  746. TYLENOL [Concomitant]
     Active Substance: ACETAMINOPHEN
  747. TYLENOL WITH CODEINE [Concomitant]
     Active Substance: ACETAMINOPHEN\CODEINE PHOSPHATE
     Indication: Product used for unknown indication
  748. TYLENOL WITH CODEINE [Concomitant]
     Active Substance: ACETAMINOPHEN\CODEINE PHOSPHATE
  749. VITAMIN C [Concomitant]
     Active Substance: ASCORBIC ACID
     Indication: Product used for unknown indication
  750. VITAMIN C [Concomitant]
     Active Substance: ASCORBIC ACID
  751. ERGOCALCIFEROL [Concomitant]
     Active Substance: ERGOCALCIFEROL
     Indication: Product used for unknown indication
  752. PREDNISONE [Concomitant]
     Active Substance: PREDNISONE
     Indication: Rheumatoid arthritis
     Route: 048
  753. PREDNISONE [Concomitant]
     Active Substance: PREDNISONE
     Route: 048
  754. PREDNISONE [Concomitant]
     Active Substance: PREDNISONE
  755. XELJANZ [Concomitant]
     Active Substance: TOFACITINIB CITRATE
     Indication: Rheumatoid arthritis
     Route: 048
  756. XELJANZ [Concomitant]
     Active Substance: TOFACITINIB CITRATE
     Indication: Psoriatic arthropathy
  757. XELJANZ [Concomitant]
     Active Substance: TOFACITINIB CITRATE
  758. XELJANZ [Concomitant]
     Active Substance: TOFACITINIB CITRATE
     Dosage: 5
     Route: 048
  759. XELJANZ [Concomitant]
     Active Substance: TOFACITINIB CITRATE
  760. XELJANZ [Concomitant]
     Active Substance: TOFACITINIB CITRATE
     Route: 048
  761. XELJANZ [Concomitant]
     Active Substance: TOFACITINIB CITRATE
  762. XELJANZ [Concomitant]
     Active Substance: TOFACITINIB CITRATE
     Route: 048
  763. XELJANZ [Concomitant]
     Active Substance: TOFACITINIB CITRATE
     Route: 016
  764. XELJANZ [Concomitant]
     Active Substance: TOFACITINIB CITRATE
  765. XELJANZ [Concomitant]
     Active Substance: TOFACITINIB CITRATE
  766. XELJANZ [Concomitant]
     Active Substance: TOFACITINIB CITRATE
     Route: 048
  767. XELJANZ [Concomitant]
     Active Substance: TOFACITINIB CITRATE
     Route: 048
  768. XELJANZ [Concomitant]
     Active Substance: TOFACITINIB CITRATE
  769. XELJANZ [Concomitant]
     Active Substance: TOFACITINIB CITRATE
     Route: 042
  770. XELJANZ [Concomitant]
     Active Substance: TOFACITINIB CITRATE
     Route: 058
  771. XELJANZ [Concomitant]
     Active Substance: TOFACITINIB CITRATE
  772. ALENDRONIC ACID [Concomitant]
     Active Substance: ALENDRONIC ACID
     Indication: Rheumatoid arthritis
  773. ALENDRONIC ACID [Concomitant]
     Active Substance: ALENDRONIC ACID
     Route: 016
  774. ALENDRONIC ACID [Concomitant]
     Active Substance: ALENDRONIC ACID
  775. ALENDRONIC ACID [Concomitant]
     Active Substance: ALENDRONIC ACID
     Route: 048
  776. ALENDRONIC ACID [Concomitant]
     Active Substance: ALENDRONIC ACID
     Route: 048
  777. ALENDRONIC ACID [Concomitant]
     Active Substance: ALENDRONIC ACID
     Route: 048
  778. CHOLECALCIFEROL [Concomitant]
     Active Substance: CHOLECALCIFEROL
     Indication: Rheumatoid arthritis
  779. CHOLECALCIFEROL [Concomitant]
     Active Substance: CHOLECALCIFEROL
     Route: 016
  780. PANTOPRAZOLE [Concomitant]
     Active Substance: PANTOPRAZOLE
     Indication: Product used for unknown indication
  781. PANTOPRAZOLE [Concomitant]
     Active Substance: PANTOPRAZOLE
  782. ACETAMINOPHEN AND CODEINE [Concomitant]
     Active Substance: ACETAMINOPHEN\CODEINE PHOSPHATE
     Indication: Product used for unknown indication
  783. DICLOFENAC SODIUM [Concomitant]
     Active Substance: DICLOFENAC SODIUM
     Indication: Product used for unknown indication
  784. HYDROXYCHLOROQUINE SULFATE [Concomitant]
     Active Substance: HYDROXYCHLOROQUINE SULFATE
     Indication: Rheumatoid arthritis
  785. ASCORBIC ACID [Concomitant]
     Active Substance: ASCORBIC ACID
     Indication: Product used for unknown indication
  786. ACETAMINOPHEN [Concomitant]
     Active Substance: ACETAMINOPHEN
     Indication: Product used for unknown indication
  787. ACETAMINOPHEN\CAFFEINE\CODEINE PHOSPHATE [Concomitant]
     Active Substance: ACETAMINOPHEN\CAFFEINE\CODEINE PHOSPHATE
     Indication: Product used for unknown indication
  788. CAFFEINE CITRATE [Concomitant]
     Active Substance: CAFFEINE CITRATE
     Indication: Product used for unknown indication
     Route: 048
  789. CALCIUM CARBONATE [Concomitant]
     Active Substance: CALCIUM CARBONATE
     Indication: Product used for unknown indication
  790. CALCIUM GLUBIONATE [Concomitant]
     Active Substance: CALCIUM GLUBIONATE
     Indication: Product used for unknown indication
  791. CALCIUM GLUBIONATE [Concomitant]
     Active Substance: CALCIUM GLUBIONATE
     Route: 016
  792. CALCIUM GLUBIONATE [Concomitant]
     Active Substance: CALCIUM GLUBIONATE
  793. CALCIUM GLUBIONATE [Concomitant]
     Active Substance: CALCIUM GLUBIONATE
  794. CELECOXIB [Concomitant]
     Active Substance: CELECOXIB
     Indication: Product used for unknown indication
  795. CETRIMIDE [Concomitant]
     Active Substance: CETRIMIDE
     Indication: Product used for unknown indication
  796. CHLORHEXIDINE [Concomitant]
     Active Substance: CHLORHEXIDINE
     Indication: Product used for unknown indication
  797. ETANERCEPT [Concomitant]
     Active Substance: ETANERCEPT
     Indication: Rheumatoid arthritis
     Route: 058
  798. ETANERCEPT [Concomitant]
     Active Substance: ETANERCEPT
  799. ETANERCEPT [Concomitant]
     Active Substance: ETANERCEPT
     Route: 058
  800. HYDROCORTISONE [Concomitant]
     Active Substance: HYDROCORTISONE
     Indication: Rheumatoid arthritis
  801. HYDROCORTISONE [Concomitant]
     Active Substance: HYDROCORTISONE
  802. HYDROCORTISONE [Concomitant]
     Active Substance: HYDROCORTISONE
  803. HYDROCORTISONE [Concomitant]
     Active Substance: HYDROCORTISONE
     Route: 058
  804. HYDROCORTISONE [Concomitant]
     Active Substance: HYDROCORTISONE
     Route: 048
  805. HYDROCORTISONE [Concomitant]
     Active Substance: HYDROCORTISONE
  806. HYDROCORTISONE [Concomitant]
     Active Substance: HYDROCORTISONE
     Route: 048
  807. HYDROCORTISONE [Concomitant]
     Active Substance: HYDROCORTISONE
  808. HYDROXYCHLOROQUINE [Concomitant]
     Active Substance: HYDROXYCHLOROQUINE
     Indication: Rheumatoid arthritis
  809. HYDROXYCHLOROQUINE [Concomitant]
     Active Substance: HYDROXYCHLOROQUINE
     Route: 048
  810. HYDROXYCHLOROQUINE [Concomitant]
     Active Substance: HYDROXYCHLOROQUINE
     Route: 005
  811. LISINOPRIL [Concomitant]
     Active Substance: LISINOPRIL
     Indication: Product used for unknown indication
     Route: 048
  812. LISINOPRIL [Concomitant]
     Active Substance: LISINOPRIL
  813. LORAZEPAM [Concomitant]
     Active Substance: LORAZEPAM
     Indication: Product used for unknown indication
  814. LORAZEPAM [Concomitant]
     Active Substance: LORAZEPAM
  815. MAGNESIUM [Concomitant]
     Active Substance: MAGNESIUM
     Indication: Product used for unknown indication
  816. MOXIFLOXACIN [Concomitant]
     Active Substance: MOXIFLOXACIN
     Indication: Product used for unknown indication
     Route: 058
  817. NAPROXEN [Concomitant]
     Active Substance: NAPROXEN
     Indication: Rheumatoid arthritis
  818. NAPROXEN [Concomitant]
     Active Substance: NAPROXEN
     Indication: Rheumatoid arthritis
  819. NAPROXEN [Concomitant]
     Active Substance: NAPROXEN
  820. NAPROXEN [Concomitant]
     Active Substance: NAPROXEN
  821. OXYCODONE AND ACETAMINOPHEN [Concomitant]
     Active Substance: ACETAMINOPHEN\OXYCODONE HYDROCHLORIDE
     Indication: Product used for unknown indication
  822. PREDNISONE [Concomitant]
     Active Substance: PREDNISONE
     Indication: Systemic lupus erythematosus
  823. PREDNISONE [Concomitant]
     Active Substance: PREDNISONE
     Indication: Synovitis
     Route: 042
  824. PREDNISONE [Concomitant]
     Active Substance: PREDNISONE
     Indication: Rheumatoid arthritis
     Route: 048
  825. PREDNISONE [Concomitant]
     Active Substance: PREDNISONE
     Indication: Psoriatic arthropathy
  826. PREDNISONE [Concomitant]
     Active Substance: PREDNISONE
     Indication: Pemphigus
  827. PREDNISONE [Concomitant]
     Active Substance: PREDNISONE
     Indication: Condition aggravated
     Route: 016
  828. PREDNISONE [Concomitant]
     Active Substance: PREDNISONE
     Route: 048
  829. PREDNISONE [Concomitant]
     Active Substance: PREDNISONE
     Route: 058
  830. PREDNISONE [Concomitant]
     Active Substance: PREDNISONE
     Route: 048
  831. PREDNISONE [Concomitant]
     Active Substance: PREDNISONE
     Route: 048
  832. PREDNISONE [Concomitant]
     Active Substance: PREDNISONE
     Route: 048
  833. PREDNISONE [Concomitant]
     Active Substance: PREDNISONE
     Route: 048
  834. PREVACID [Concomitant]
     Active Substance: LANSOPRAZOLE
     Indication: Product used for unknown indication
  835. PSEUDOEPHEDRINE [Concomitant]
     Active Substance: PSEUDOEPHEDRINE
     Indication: Rheumatoid arthritis
  836. PSEUDOEPHEDRINE [Concomitant]
     Active Substance: PSEUDOEPHEDRINE
  837. PSEUDOEPHEDRINE [Concomitant]
     Active Substance: PSEUDOEPHEDRINE
  838. RITUXAN [Concomitant]
     Active Substance: RITUXIMAB
     Indication: Rheumatoid arthritis
     Dosage: SOLUTION INTRAVENOUS
     Route: 042
  839. SARILUMAB [Concomitant]
     Active Substance: SARILUMAB
     Indication: Product used for unknown indication
  840. SOLU-MEDROL [Concomitant]
     Active Substance: METHYLPREDNISOLONE SODIUM SUCCINATE
     Indication: Product used for unknown indication
  841. TOPICORT [Concomitant]
     Active Substance: DESOXIMETASONE
     Indication: Rheumatoid arthritis
  842. TOPICORT [Concomitant]
     Active Substance: DESOXIMETASONE
     Route: 058
  843. TOPICORT [Concomitant]
     Active Substance: DESOXIMETASONE
     Route: 003
  844. TOPICORT [Concomitant]
     Active Substance: DESOXIMETASONE
  845. TOPICORT [Concomitant]
     Active Substance: DESOXIMETASONE
  846. TOPICORT [Concomitant]
     Active Substance: DESOXIMETASONE
  847. TOPICORT [Concomitant]
     Active Substance: DESOXIMETASONE
  848. VITAMIN D3 [Concomitant]
     Active Substance: CHOLECALCIFEROL
     Indication: Rheumatoid arthritis
  849. VITAMIN D3 [Concomitant]
     Active Substance: CHOLECALCIFEROL
  850. DICLOFENAC [Concomitant]
     Active Substance: DICLOFENAC
     Indication: Product used for unknown indication
  851. ZESTRIL [Concomitant]
     Active Substance: LISINOPRIL
     Indication: Product used for unknown indication
  852. CODEINE PHOSPHATE [Concomitant]
     Active Substance: CODEINE PHOSPHATE
     Indication: Product used for unknown indication
  853. HYDROCORTISONE BUTYRATE [Concomitant]
     Active Substance: HYDROCORTISONE BUTYRATE
     Indication: Rheumatoid arthritis
     Route: 048
  854. HYDROCORTISONE BUTYRATE [Concomitant]
     Active Substance: HYDROCORTISONE BUTYRATE
  855. PANTOPRAZOLE SODIUM ANHYDROUS [Concomitant]
     Active Substance: PANTOPRAZOLE SODIUM ANHYDROUS
     Indication: Dyspepsia
     Route: 016
  856. PANTOPRAZOLE SODIUM ANHYDROUS [Concomitant]
     Active Substance: PANTOPRAZOLE SODIUM ANHYDROUS
  857. PANTOPRAZOLE SODIUM ANHYDROUS [Concomitant]
     Active Substance: PANTOPRAZOLE SODIUM ANHYDROUS
  858. PANTOPRAZOLE SODIUM ANHYDROUS [Concomitant]
     Active Substance: PANTOPRAZOLE SODIUM ANHYDROUS
  859. HYALURONIDASE (HUMAN RECOMBINANT)\RITUXIMAB [Concomitant]
     Active Substance: HYALURONIDASE (HUMAN RECOMBINANT)\RITUXIMAB
     Indication: Rheumatoid arthritis
     Route: 058
  860. DIETARY SUPPLEMENT\HERBALS [Concomitant]
     Active Substance: DIETARY SUPPLEMENT\HERBALS
     Indication: Product used for unknown indication
     Dosage: DROPS ORAL
     Route: 048
  861. ALENDRONATE SODIUM\CHOLECALCIFEROL [Concomitant]
     Active Substance: ALENDRONATE SODIUM\CHOLECALCIFEROL
     Indication: Rheumatoid arthritis
  862. APREMILAST [Concomitant]
     Active Substance: APREMILAST
     Indication: Product used for unknown indication
  863. APREMILAST [Concomitant]
     Active Substance: APREMILAST
  864. APREMILAST [Concomitant]
     Active Substance: APREMILAST
     Route: 042
  865. APREMILAST [Concomitant]
     Active Substance: APREMILAST
     Route: 042
  866. APREMILAST [Concomitant]
     Active Substance: APREMILAST
     Route: 048
  867. APREMILAST [Concomitant]
     Active Substance: APREMILAST
  868. APREMILAST [Concomitant]
     Active Substance: APREMILAST
  869. ASACOL [Concomitant]
     Active Substance: MESALAMINE
     Indication: Rheumatoid arthritis
  870. BORAGE OIL [Concomitant]
     Active Substance: BORAGE OIL
     Indication: Product used for unknown indication
  871. CALCIUM [Concomitant]
     Active Substance: CALCIUM
     Indication: Product used for unknown indication
  872. CALCIUM CARBONATE [Concomitant]
     Active Substance: CALCIUM CARBONATE
     Indication: Product used for unknown indication
     Route: 016
  873. CALCIUM CARBONATE [Concomitant]
     Active Substance: CALCIUM CARBONATE
  874. CELECOXIB [Concomitant]
     Active Substance: CELECOXIB
     Indication: Product used for unknown indication
  875. CELECOXIB [Concomitant]
     Active Substance: CELECOXIB
     Route: 048
  876. CERTOLIZUMAB PEGOL [Concomitant]
     Active Substance: CERTOLIZUMAB PEGOL
     Indication: Rheumatoid arthritis
  877. CERTOLIZUMAB PEGOL [Concomitant]
     Active Substance: CERTOLIZUMAB PEGOL
     Indication: Psoriasis
  878. CERTOLIZUMAB PEGOL [Concomitant]
     Active Substance: CERTOLIZUMAB PEGOL
     Route: 058
  879. CERTOLIZUMAB PEGOL [Concomitant]
     Active Substance: CERTOLIZUMAB PEGOL
     Route: 058
  880. CHLORHEXIDINE GLUCONATE [Concomitant]
     Active Substance: CHLORHEXIDINE GLUCONATE
     Indication: Product used for unknown indication
  881. CHLORHEXIDINE GLUCONATE [Concomitant]
     Active Substance: CHLORHEXIDINE GLUCONATE
     Route: 048
  882. CHLORHEXIDINE GLUCONATE [Concomitant]
     Active Substance: CHLORHEXIDINE GLUCONATE
     Route: 002
  883. DILTIAZEM [Concomitant]
     Active Substance: DILTIAZEM
     Indication: Product used for unknown indication
  884. DILTIAZEM HYDROCHLORIDE [Concomitant]
     Active Substance: DILTIAZEM HYDROCHLORIDE
     Indication: Product used for unknown indication
  885. DILTIAZEM HYDROCHLORIDE [Concomitant]
     Active Substance: DILTIAZEM HYDROCHLORIDE
     Route: 042
  886. DILTIAZEM HYDROCHLORIDE [Concomitant]
     Active Substance: DILTIAZEM HYDROCHLORIDE
     Route: 002
  887. DOXYCYCLINE [Concomitant]
     Active Substance: DOXYCYCLINE
     Indication: Product used for unknown indication
  888. DOXYCYCLINE HYCLATE [Concomitant]
     Active Substance: DOXYCYCLINE HYCLATE
     Indication: Rheumatoid arthritis
  889. DOXYCYCLINE HYCLATE [Concomitant]
     Active Substance: DOXYCYCLINE HYCLATE
  890. DOXYCYCLINE HYCLATE [Concomitant]
     Active Substance: DOXYCYCLINE HYCLATE
  891. ENTYVIO [Concomitant]
     Active Substance: VEDOLIZUMAB
     Indication: Product used for unknown indication
  892. ENTYVIO [Concomitant]
     Active Substance: VEDOLIZUMAB
  893. ENTYVIO [Concomitant]
     Active Substance: VEDOLIZUMAB
  894. ENTYVIO [Concomitant]
     Active Substance: VEDOLIZUMAB
  895. HYDROCORTISONE [Concomitant]
     Active Substance: HYDROCORTISONE
     Indication: Rheumatoid arthritis
     Route: 048
  896. HYDROCORTISONE [Concomitant]
     Active Substance: HYDROCORTISONE
  897. HYDROCORTISONE [Concomitant]
     Active Substance: HYDROCORTISONE
  898. HYDROCORTISONE [Concomitant]
     Active Substance: HYDROCORTISONE
     Route: 003
  899. HYDROCORTISONE [Concomitant]
     Active Substance: HYDROCORTISONE
     Route: 058
  900. HYDROCORTISONE ACETATE [Concomitant]
     Active Substance: HYDROCORTISONE ACETATE
     Indication: Rheumatoid arthritis
  901. HYDROCORTISONE ACETATE [Concomitant]
     Active Substance: HYDROCORTISONE ACETATE
  902. HYDROCORTISONE ACETATE [Concomitant]
     Active Substance: HYDROCORTISONE ACETATE
     Route: 058
  903. HYDROCORTISONE ACETATE [Concomitant]
     Active Substance: HYDROCORTISONE ACETATE
     Route: 048
  904. HYDROCORTISONE ACETATE [Concomitant]
     Active Substance: HYDROCORTISONE ACETATE
     Route: 003
  905. HYDROCORTISONE ACETATE [Concomitant]
     Active Substance: HYDROCORTISONE ACETATE
  906. HYDROCORTISONE ACETATE [Concomitant]
     Active Substance: HYDROCORTISONE ACETATE
  907. HYDROCORTISONE ACETATE [Concomitant]
     Active Substance: HYDROCORTISONE ACETATE
  908. HYDROCORTISONE BUTYRATE [Concomitant]
     Active Substance: HYDROCORTISONE BUTYRATE
     Indication: Rheumatoid arthritis
     Route: 048
  909. HYDROCORTISONE BUTYRATE [Concomitant]
     Active Substance: HYDROCORTISONE BUTYRATE
     Route: 058
  910. HYDROCORTISONE SODIUM SUCCINATE [Concomitant]
     Active Substance: HYDROCORTISONE SODIUM SUCCINATE
     Indication: Rheumatoid arthritis
  911. HYDROCORTISONE SODIUM SUCCINATE [Concomitant]
     Active Substance: HYDROCORTISONE SODIUM SUCCINATE
     Route: 048
  912. ACETAMINOPHEN\OXYCODONE HYDROCHLORIDE [Concomitant]
     Active Substance: ACETAMINOPHEN\OXYCODONE HYDROCHLORIDE
     Indication: Product used for unknown indication
  913. ACETAMINOPHEN\OXYCODONE HYDROCHLORIDE [Concomitant]
     Active Substance: ACETAMINOPHEN\OXYCODONE HYDROCHLORIDE
  914. AIMOVIG [Concomitant]
     Active Substance: ERENUMAB-AOOE
     Indication: Migraine
  915. AIMOVIG [Concomitant]
     Active Substance: ERENUMAB-AOOE
  916. AZATHIOPRINE [Concomitant]
     Active Substance: AZATHIOPRINE
     Indication: Rheumatoid arthritis
  917. AMINOSALICYLATE CALCIUM [Concomitant]
     Active Substance: AMINOSALICYLATE CALCIUM
     Indication: Product used for unknown indication
  918. CALCIUM CARBONATE/COPPER SULFATE/MAGNESIUM CARBONATE/MAGNESIUM OXIDE/M [Concomitant]
     Indication: Product used for unknown indication
     Route: 016
  919. CALCIUM CARBONATE/COPPER SULFATE/MAGNESIUM CARBONATE/MAGNESIUM OXIDE/M [Concomitant]
  920. CALCIUM LACTATE [Concomitant]
     Active Substance: CALCIUM LACTATE
     Indication: Product used for unknown indication
  921. CHLORHEXIDINE GLUCONATE\ISOPROPYL ALCOHOL [Concomitant]
     Active Substance: CHLORHEXIDINE GLUCONATE\ISOPROPYL ALCOHOL
     Indication: Product used for unknown indication
     Route: 002
  922. CHLORHEXIDINE GLUCONATE\ISOPROPYL ALCOHOL [Concomitant]
     Active Substance: CHLORHEXIDINE GLUCONATE\ISOPROPYL ALCOHOL
  923. DIPHENHYDRAMINE [Concomitant]
     Active Substance: DIPHENHYDRAMINE
     Indication: Product used for unknown indication
  924. EMEND [Concomitant]
     Active Substance: APREPITANT
     Indication: Rheumatoid arthritis
     Route: 048
  925. EMEND [Concomitant]
     Active Substance: APREPITANT
  926. EMEND [Concomitant]
     Active Substance: APREPITANT
     Route: 040
  927. ETHINYL ESTRADIOL\NORETHINDRONE [Concomitant]
     Active Substance: ETHINYL ESTRADIOL\NORETHINDRONE
     Indication: Rheumatoid arthritis
  928. HYALURONIDASE [Concomitant]
     Active Substance: HYALURONIDASE
     Indication: Rheumatoid arthritis
  929. ISOPROPYL ALCOHOL [Concomitant]
     Active Substance: ISOPROPYL ALCOHOL
     Indication: Rheumatoid arthritis
  930. ISOPROPYL ALCOHOL [Concomitant]
     Active Substance: ISOPROPYL ALCOHOL
     Dosage: LIQUID TOPICAL
     Route: 058
  931. CLIOQUINOL\FLUMETHASONE [Concomitant]
     Active Substance: CLIOQUINOL\FLUMETHASONE
     Indication: Product used for unknown indication
  932. CLIOQUINOL\FLUMETHASONE [Concomitant]
     Active Substance: CLIOQUINOL\FLUMETHASONE
  933. MORPHINE [Concomitant]
     Active Substance: MORPHINE
     Indication: Rheumatoid arthritis
     Route: 048
  934. PARA-AMINOSALICYLIC ACID [Concomitant]
     Active Substance: AMINOSALICYLIC ACID
     Indication: Product used for unknown indication
  935. PERCOCET [Concomitant]
     Active Substance: ACETAMINOPHEN\OXYCODONE HYDROCHLORIDE
     Indication: Product used for unknown indication
  936. PREGABALIN [Concomitant]
     Active Substance: PREGABALIN
     Indication: Product used for unknown indication
  937. ALBUTEROL [Concomitant]
     Active Substance: ALBUTEROL
     Indication: Product used for unknown indication
  938. HYALURONIDASE (HUMAN RECOMBINANT) [Concomitant]
     Active Substance: HYALURONIDASE (HUMAN RECOMBINANT)
     Indication: Rheumatoid arthritis
     Route: 042
  939. HYALURONIDASE (HUMAN RECOMBINANT) [Concomitant]
     Active Substance: HYALURONIDASE (HUMAN RECOMBINANT)
     Route: 058
  940. HYALURONIDASE (HUMAN RECOMBINANT) [Concomitant]
     Active Substance: HYALURONIDASE (HUMAN RECOMBINANT)
     Route: 042
  941. CANDESARTAN [Concomitant]
     Active Substance: CANDESARTAN
     Indication: Migraine
  942. CANDESARTAN [Concomitant]
     Active Substance: CANDESARTAN
     Route: 048
  943. CYANOCOBALAMIN [Concomitant]
     Active Substance: CYANOCOBALAMIN
     Indication: Product used for unknown indication
  944. DOMPERIDONE MALEATE [Concomitant]
     Active Substance: DOMPERIDONE MALEATE
     Indication: Product used for unknown indication
  945. DOMPERIDONE MALEATE [Concomitant]
     Active Substance: DOMPERIDONE MALEATE
  946. Pantoprazole sodium/Domperidone [Concomitant]
     Indication: Product used for unknown indication
  947. ELBASVIR [Concomitant]
     Active Substance: ELBASVIR
     Indication: Product used for unknown indication
  948. GOLIMUMAB [Concomitant]
     Active Substance: GOLIMUMAB
     Indication: Rheumatoid arthritis
  949. GOLIMUMAB [Concomitant]
     Active Substance: GOLIMUMAB
     Indication: Prostatic specific antigen
     Route: 058
  950. HYRIMOZ [Concomitant]
     Active Substance: ADALIMUMAB-ADAZ
     Indication: Rheumatoid arthritis
     Route: 058
  951. LAMICTAL [Concomitant]
     Active Substance: LAMOTRIGINE
     Indication: Product used for unknown indication
  952. LAMICTAL [Concomitant]
     Active Substance: LAMOTRIGINE
     Route: 048
  953. LAMICTAL [Concomitant]
     Active Substance: LAMOTRIGINE
     Route: 048
  954. OXYCODONE HYDROCHLORIDE [Concomitant]
     Active Substance: OXYCODONE HYDROCHLORIDE
     Indication: Product used for unknown indication
  955. PHENYLEPHRINE HYDROCHLORIDE [Concomitant]
     Active Substance: PHENYLEPHRINE HYDROCHLORIDE
     Indication: Rheumatoid arthritis
     Route: 030
  956. PHENYLEPHRINE HYDROCHLORIDE [Concomitant]
     Active Substance: PHENYLEPHRINE HYDROCHLORIDE
  957. TOFACITINIB CITRATE [Concomitant]
     Active Substance: TOFACITINIB CITRATE
     Indication: Rheumatoid arthritis
  958. TOFACITINIB CITRATE [Concomitant]
     Active Substance: TOFACITINIB CITRATE
     Indication: Psoriatic arthropathy
  959. TOFACITINIB CITRATE [Concomitant]
     Active Substance: TOFACITINIB CITRATE
  960. TOPIRAMATE [Concomitant]
     Active Substance: TOPIRAMATE
     Indication: Migraine
  961. TOPIRAMATE [Concomitant]
     Active Substance: TOPIRAMATE
  962. TOPIRAMATE [Concomitant]
     Active Substance: TOPIRAMATE
  963. TOPIRAMATE [Concomitant]
     Active Substance: TOPIRAMATE
     Route: 048
  964. TOPIRAMATE [Concomitant]
     Active Substance: TOPIRAMATE
  965. TOPIRAMATE [Concomitant]
     Active Substance: TOPIRAMATE
  966. TRAZODONE [Concomitant]
     Active Substance: TRAZODONE HYDROCHLORIDE
     Indication: Product used for unknown indication
  967. DICLOFENAC DIETHYLAMINE [Concomitant]
     Active Substance: DICLOFENAC DIETHYLAMINE
     Indication: Product used for unknown indication

REACTIONS (2)
  - Death [Fatal]
  - Off label use [Unknown]
